FAERS Safety Report 23369170 (Version 4)
Quarter: 2024Q3

REPORT INFORMATION
  Report Type: Spontaneous
  Country: CA (occurrence: CA)
  Receive Date: 20240105
  Receipt Date: 20240903
  Transmission Date: 20241017
  Serious: Yes (Congenital Anomaly)
  Sender: BRISTOL MYERS SQUIBB
  Company Number: CA-BRISTOL-MYERS SQUIBB COMPANY-2023-188761

PATIENT

DRUGS (1111)
  1. ORENCIA [Suspect]
     Active Substance: ABATACEPT
     Indication: Product used for unknown indication
     Dosage: UNK
     Route: 064
     Dates: start: 201005, end: 201103
  2. ORENCIA [Suspect]
     Active Substance: ABATACEPT
     Dosage: UNK
     Route: 064
  3. ORENCIA [Suspect]
     Active Substance: ABATACEPT
     Route: 064
  4. ORENCIA [Suspect]
     Active Substance: ABATACEPT
     Route: 064
  5. ORENCIA [Suspect]
     Active Substance: ABATACEPT
     Route: 064
  6. ORENCIA [Suspect]
     Active Substance: ABATACEPT
     Route: 064
  7. ORENCIA [Suspect]
     Active Substance: ABATACEPT
     Dosage: DURATION-11 YEARS
     Route: 064
  8. ORENCIA [Suspect]
     Active Substance: ABATACEPT
     Route: 064
  9. ORENCIA [Suspect]
     Active Substance: ABATACEPT
     Route: 064
  10. ORENCIA [Suspect]
     Active Substance: ABATACEPT
     Route: 064
  11. ORENCIA [Suspect]
     Active Substance: ABATACEPT
     Route: 064
  12. ORENCIA [Suspect]
     Active Substance: ABATACEPT
     Route: 064
  13. ORENCIA [Suspect]
     Active Substance: ABATACEPT
     Route: 064
  14. ORENCIA [Suspect]
     Active Substance: ABATACEPT
     Route: 064
  15. ORENCIA [Suspect]
     Active Substance: ABATACEPT
     Route: 064
  16. ORENCIA [Suspect]
     Active Substance: ABATACEPT
     Route: 064
  17. ORENCIA [Suspect]
     Active Substance: ABATACEPT
     Route: 064
  18. ORENCIA [Suspect]
     Active Substance: ABATACEPT
     Indication: Product used for unknown indication
     Route: 064
  19. ORENCIA [Suspect]
     Active Substance: ABATACEPT
     Route: 064
  20. ORENCIA [Suspect]
     Active Substance: ABATACEPT
     Route: 064
  21. ORENCIA [Suspect]
     Active Substance: ABATACEPT
     Route: 064
  22. ORENCIA [Suspect]
     Active Substance: ABATACEPT
     Route: 064
  23. ORENCIA [Suspect]
     Active Substance: ABATACEPT
     Route: 064
  24. ORENCIA [Suspect]
     Active Substance: ABATACEPT
     Route: 064
  25. ORENCIA [Suspect]
     Active Substance: ABATACEPT
     Route: 064
  26. ORENCIA [Suspect]
     Active Substance: ABATACEPT
     Route: 064
  27. ORENCIA [Suspect]
     Active Substance: ABATACEPT
     Route: 064
  28. ORENCIA [Suspect]
     Active Substance: ABATACEPT
     Route: 064
  29. ORENCIA [Suspect]
     Active Substance: ABATACEPT
     Route: 064
  30. ORENCIA [Suspect]
     Active Substance: ABATACEPT
     Route: 064
  31. ORENCIA [Suspect]
     Active Substance: ABATACEPT
     Indication: Product used for unknown indication
     Route: 064
  32. ORENCIA [Suspect]
     Active Substance: ABATACEPT
     Route: 064
  33. ORENCIA [Suspect]
     Active Substance: ABATACEPT
     Indication: Product used for unknown indication
     Route: 064
  34. ORENCIA [Suspect]
     Active Substance: ABATACEPT
     Route: 064
  35. ORENCIA [Suspect]
     Active Substance: ABATACEPT
     Route: 064
  36. ORENCIA [Suspect]
     Active Substance: ABATACEPT
     Route: 064
  37. ORENCIA [Suspect]
     Active Substance: ABATACEPT
     Indication: Product used for unknown indication
     Dosage: SOLUTION FOR INJECTION/SOLUTION FOR INFUSION
     Route: 064
  38. ORENCIA [Suspect]
     Active Substance: ABATACEPT
     Dosage: SOLUTION FOR INJECTION/SOLUTION FOR INFUSION
     Route: 064
  39. ORENCIA [Suspect]
     Active Substance: ABATACEPT
     Dosage: SOLUTION FOR INJECTION/SOLUTION FOR INFUSION
     Route: 064
  40. ORENCIA [Suspect]
     Active Substance: ABATACEPT
     Route: 064
  41. ORENCIA [Suspect]
     Active Substance: ABATACEPT
     Dosage: SOLUTION FOR INFUSION/SOLUTION FOR INJECTION
     Route: 064
  42. ORENCIA [Suspect]
     Active Substance: ABATACEPT
     Route: 064
  43. ORENCIA [Suspect]
     Active Substance: ABATACEPT
     Route: 064
  44. TRIAMCINOLONE ACETONIDE [Suspect]
     Active Substance: TRIAMCINOLONE ACETONIDE
     Indication: Product used for unknown indication
     Dosage: SUSPENSION INTRA-ARTICULAR
     Route: 064
  45. TRIAMCINOLONE ACETONIDE [Suspect]
     Active Substance: TRIAMCINOLONE ACETONIDE
     Dosage: SUSPENSION INTRA-ARTICULAR
     Route: 064
  46. ACETAMINOPHEN [Suspect]
     Active Substance: ACETAMINOPHEN
     Indication: Product used for unknown indication
     Route: 064
  47. INDOMETHACIN [Concomitant]
     Active Substance: INDOMETHACIN
     Indication: Product used for unknown indication
  48. REMICADE [Concomitant]
     Active Substance: INFLIXIMAB
     Indication: Product used for unknown indication
     Route: 064
  49. REMICADE [Concomitant]
     Active Substance: INFLIXIMAB
     Route: 064
  50. REMICADE [Concomitant]
     Active Substance: INFLIXIMAB
     Route: 064
  51. REMICADE [Concomitant]
     Active Substance: INFLIXIMAB
     Dosage: POWDER FOR SOLUTION INTRAVENOUS
     Route: 064
  52. REMICADE [Concomitant]
     Active Substance: INFLIXIMAB
     Dosage: POWDER FOR SOLUTION INTRAVENOUS
     Route: 064
  53. REMICADE [Concomitant]
     Active Substance: INFLIXIMAB
     Route: 064
  54. REMICADE [Concomitant]
     Active Substance: INFLIXIMAB
     Dosage: POWDER FOR SOLUTION INTRAVENOUS
     Route: 064
  55. REMICADE [Concomitant]
     Active Substance: INFLIXIMAB
     Dosage: POWDER FOR SOLUTION INTRAVENOUS
     Route: 064
  56. REMICADE [Concomitant]
     Active Substance: INFLIXIMAB
     Dosage: POWDER FOR SOLUTION INTRAVENOUS
     Route: 064
  57. ACTEMRA [Concomitant]
     Active Substance: TOCILIZUMAB
     Indication: Product used for unknown indication
     Dosage: UNK
     Route: 064
  58. ACTEMRA [Concomitant]
     Active Substance: TOCILIZUMAB
     Dosage: UNK
     Route: 064
  59. ACTEMRA [Concomitant]
     Active Substance: TOCILIZUMAB
     Dosage: UNK
     Route: 064
  60. ACTEMRA [Concomitant]
     Active Substance: TOCILIZUMAB
     Route: 064
  61. ACTEMRA [Concomitant]
     Active Substance: TOCILIZUMAB
     Route: 064
  62. ACTEMRA [Concomitant]
     Active Substance: TOCILIZUMAB
     Route: 064
  63. ACTEMRA [Concomitant]
     Active Substance: TOCILIZUMAB
     Route: 064
  64. ACTEMRA [Concomitant]
     Active Substance: TOCILIZUMAB
     Route: 064
  65. ACTEMRA [Concomitant]
     Active Substance: TOCILIZUMAB
     Route: 064
  66. ACTEMRA [Concomitant]
     Active Substance: TOCILIZUMAB
     Route: 064
  67. ACTEMRA [Concomitant]
     Active Substance: TOCILIZUMAB
     Route: 064
  68. ACTEMRA [Concomitant]
     Active Substance: TOCILIZUMAB
     Route: 064
  69. ACTEMRA [Concomitant]
     Active Substance: TOCILIZUMAB
     Route: 064
  70. ACTEMRA [Concomitant]
     Active Substance: TOCILIZUMAB
     Route: 064
  71. ACTEMRA [Concomitant]
     Active Substance: TOCILIZUMAB
     Route: 064
  72. ACTEMRA [Concomitant]
     Active Substance: TOCILIZUMAB
     Route: 064
  73. ACTEMRA [Concomitant]
     Active Substance: TOCILIZUMAB
     Route: 064
  74. ACTEMRA [Concomitant]
     Active Substance: TOCILIZUMAB
     Route: 064
  75. ACTEMRA [Concomitant]
     Active Substance: TOCILIZUMAB
     Route: 064
  76. ACTEMRA [Concomitant]
     Active Substance: TOCILIZUMAB
     Route: 064
  77. ACTEMRA [Concomitant]
     Active Substance: TOCILIZUMAB
     Route: 064
  78. ACTEMRA [Concomitant]
     Active Substance: TOCILIZUMAB
     Route: 064
  79. ACTEMRA [Concomitant]
     Active Substance: TOCILIZUMAB
     Route: 064
  80. ACTEMRA [Concomitant]
     Active Substance: TOCILIZUMAB
     Route: 064
  81. ACTEMRA [Concomitant]
     Active Substance: TOCILIZUMAB
     Route: 064
  82. ACTEMRA [Concomitant]
     Active Substance: TOCILIZUMAB
     Dosage: UNK
     Route: 064
  83. ACTEMRA [Concomitant]
     Active Substance: TOCILIZUMAB
     Dosage: UNK
     Route: 064
  84. ACTEMRA [Concomitant]
     Active Substance: TOCILIZUMAB
     Dosage: UNK
     Route: 064
  85. ACTEMRA [Concomitant]
     Active Substance: TOCILIZUMAB
     Dosage: UNK
     Route: 064
  86. ACTEMRA [Concomitant]
     Active Substance: TOCILIZUMAB
     Dosage: UNK
     Route: 064
  87. ACTEMRA [Concomitant]
     Active Substance: TOCILIZUMAB
     Dosage: UNK
     Route: 064
  88. ACTEMRA [Concomitant]
     Active Substance: TOCILIZUMAB
     Dosage: UNK
     Route: 064
  89. CIMZIA [Concomitant]
     Active Substance: CERTOLIZUMAB PEGOL
     Indication: Product used for unknown indication
     Dosage: UNK
     Route: 064
  90. CIMZIA [Concomitant]
     Active Substance: CERTOLIZUMAB PEGOL
     Dosage: 400 MILLIGRAM, QMO
     Route: 064
  91. CIMZIA [Concomitant]
     Active Substance: CERTOLIZUMAB PEGOL
     Dosage: 400 MILLIGRAM
     Route: 064
  92. CIMZIA [Concomitant]
     Active Substance: CERTOLIZUMAB PEGOL
     Dosage: 1 DOSAGE FORM, QD
     Route: 064
  93. CIMZIA [Concomitant]
     Active Substance: CERTOLIZUMAB PEGOL
     Route: 064
  94. CIMZIA [Concomitant]
     Active Substance: CERTOLIZUMAB PEGOL
     Route: 064
  95. CIMZIA [Concomitant]
     Active Substance: CERTOLIZUMAB PEGOL
     Route: 064
  96. CIMZIA [Concomitant]
     Active Substance: CERTOLIZUMAB PEGOL
     Dosage: UNK
     Route: 064
  97. HUMIRA [Concomitant]
     Active Substance: ADALIMUMAB
     Indication: Product used for unknown indication
     Route: 064
  98. HUMIRA [Concomitant]
     Active Substance: ADALIMUMAB
     Dosage: UNK
     Route: 064
  99. HUMIRA [Concomitant]
     Active Substance: ADALIMUMAB
     Route: 064
  100. HUMIRA [Concomitant]
     Active Substance: ADALIMUMAB
     Route: 064
  101. HUMIRA [Concomitant]
     Active Substance: ADALIMUMAB
     Route: 064
  102. HUMIRA [Concomitant]
     Active Substance: ADALIMUMAB
     Route: 064
  103. HUMIRA [Concomitant]
     Active Substance: ADALIMUMAB
     Route: 064
  104. HUMIRA [Concomitant]
     Active Substance: ADALIMUMAB
     Route: 064
  105. HUMIRA [Concomitant]
     Active Substance: ADALIMUMAB
     Route: 064
  106. HUMIRA [Concomitant]
     Active Substance: ADALIMUMAB
     Dosage: SOLUTION FOR INJECTION/INFUSION
     Route: 064
  107. HUMIRA [Concomitant]
     Active Substance: ADALIMUMAB
     Dosage: SOLUTION FOR INJECTION/INFUSION
     Route: 064
  108. HUMIRA [Concomitant]
     Active Substance: ADALIMUMAB
     Dosage: SOLUTION SUBCUTANEOUS
     Route: 064
  109. HUMIRA [Concomitant]
     Active Substance: ADALIMUMAB
     Route: 064
  110. HUMIRA [Concomitant]
     Active Substance: ADALIMUMAB
     Route: 064
  111. HUMIRA [Concomitant]
     Active Substance: ADALIMUMAB
     Route: 064
  112. HUMIRA [Concomitant]
     Active Substance: ADALIMUMAB
     Route: 064
  113. HUMIRA [Concomitant]
     Active Substance: ADALIMUMAB
     Route: 064
  114. HUMIRA [Concomitant]
     Active Substance: ADALIMUMAB
     Route: 064
  115. HUMIRA [Concomitant]
     Active Substance: ADALIMUMAB
     Route: 064
  116. HUMIRA [Concomitant]
     Active Substance: ADALIMUMAB
     Route: 064
  117. ENBREL [Concomitant]
     Active Substance: BENZYL ALCOHOL\ETANERCEPT
     Indication: Product used for unknown indication
     Dosage: UNK
     Route: 064
  118. ENBREL [Concomitant]
     Active Substance: BENZYL ALCOHOL\ETANERCEPT
     Dosage: 50 MILLIGRAM, QWK
     Route: 064
  119. ENBREL [Concomitant]
     Active Substance: BENZYL ALCOHOL\ETANERCEPT
     Dosage: UNK UNK, QWK
     Route: 064
  120. ENBREL [Concomitant]
     Active Substance: BENZYL ALCOHOL\ETANERCEPT
     Dosage: UNK
     Route: 064
  121. ENBREL [Concomitant]
     Active Substance: BENZYL ALCOHOL\ETANERCEPT
     Dosage: 20 MILLIGRAM
     Route: 064
  122. ENBREL [Concomitant]
     Active Substance: BENZYL ALCOHOL\ETANERCEPT
     Route: 064
  123. ENBREL [Concomitant]
     Active Substance: BENZYL ALCOHOL\ETANERCEPT
     Route: 064
  124. ENBREL [Concomitant]
     Active Substance: BENZYL ALCOHOL\ETANERCEPT
     Route: 064
  125. ENBREL [Concomitant]
     Active Substance: BENZYL ALCOHOL\ETANERCEPT
     Route: 064
  126. ENBREL [Concomitant]
     Active Substance: BENZYL ALCOHOL\ETANERCEPT
     Route: 064
  127. ENBREL [Concomitant]
     Active Substance: BENZYL ALCOHOL\ETANERCEPT
     Route: 064
  128. ENBREL [Concomitant]
     Active Substance: BENZYL ALCOHOL\ETANERCEPT
     Route: 064
  129. RITUXAN [Concomitant]
     Active Substance: RITUXIMAB
     Indication: Product used for unknown indication
     Dosage: UNK
     Route: 064
  130. RITUXAN [Concomitant]
     Active Substance: RITUXIMAB
     Route: 064
  131. RITUXAN [Concomitant]
     Active Substance: RITUXIMAB
     Dosage: SOLUTION INTRAVENOUS
     Route: 064
  132. RITUXAN [Concomitant]
     Active Substance: RITUXIMAB
     Dosage: SOLUTION INTRAVENOUS
     Route: 064
  133. ARAVA [Concomitant]
     Active Substance: LEFLUNOMIDE
     Indication: Product used for unknown indication
     Dosage: UNK
     Route: 064
  134. ARAVA [Concomitant]
     Active Substance: LEFLUNOMIDE
     Dosage: 20 MILLIGRAM
     Route: 064
  135. ARAVA [Concomitant]
     Active Substance: LEFLUNOMIDE
     Dosage: UNK
     Route: 064
  136. ARAVA [Concomitant]
     Active Substance: LEFLUNOMIDE
     Dosage: 20 MILLIGRAM, QD
     Route: 064
  137. ARAVA [Concomitant]
     Active Substance: LEFLUNOMIDE
     Route: 064
  138. ARAVA [Concomitant]
     Active Substance: LEFLUNOMIDE
     Route: 064
  139. ARAVA [Concomitant]
     Active Substance: LEFLUNOMIDE
     Route: 064
  140. ARAVA [Concomitant]
     Active Substance: LEFLUNOMIDE
     Route: 064
  141. ARAVA [Concomitant]
     Active Substance: LEFLUNOMIDE
     Route: 064
  142. HYDROXYCHLOROQUINE DIPHOSPHATE [Concomitant]
     Active Substance: HYDROXYCHLOROQUINE DIPHOSPHATE
     Indication: Product used for unknown indication
     Route: 064
  143. HYDROXYCHLOROQUINE DIPHOSPHATE [Concomitant]
     Active Substance: HYDROXYCHLOROQUINE DIPHOSPHATE
     Route: 064
  144. HYDROXYCHLOROQUINE DIPHOSPHATE [Concomitant]
     Active Substance: HYDROXYCHLOROQUINE DIPHOSPHATE
     Dosage: UNK
     Route: 064
  145. HYDROXYCHLOROQUINE DIPHOSPHATE [Concomitant]
     Active Substance: HYDROXYCHLOROQUINE DIPHOSPHATE
     Route: 064
  146. SULFATHALIDINE [Concomitant]
     Active Substance: PHTHALYLSULFATHIAZOLE
     Indication: Product used for unknown indication
     Route: 064
  147. SULFATHALIDINE [Concomitant]
     Active Substance: PHTHALYLSULFATHIAZOLE
     Route: 064
  148. CORTISONE [Concomitant]
     Active Substance: CORTISONE
     Indication: Rheumatoid arthritis
     Route: 064
  149. CORTISONE [Concomitant]
     Active Substance: CORTISONE
     Route: 064
  150. CORTISONE [Concomitant]
     Active Substance: CORTISONE
     Route: 064
  151. CORTISONE [Concomitant]
     Active Substance: CORTISONE
     Route: 064
  152. CORTISONE [Concomitant]
     Active Substance: CORTISONE
     Route: 064
  153. CORTISONE [Concomitant]
     Active Substance: CORTISONE
     Route: 064
  154. CORTISONE [Concomitant]
     Active Substance: CORTISONE
     Route: 064
  155. CORTISONE [Concomitant]
     Active Substance: CORTISONE
     Route: 064
  156. FOLIC ACID [Concomitant]
     Active Substance: FOLIC ACID
     Indication: Product used for unknown indication
     Route: 064
  157. FOLIC ACID [Concomitant]
     Active Substance: FOLIC ACID
     Route: 064
  158. FOLIC ACID [Concomitant]
     Active Substance: FOLIC ACID
     Route: 064
  159. FOLIC ACID [Concomitant]
     Active Substance: FOLIC ACID
     Dosage: 1 MILLIGRAM
     Route: 064
  160. FOLIC ACID [Concomitant]
     Active Substance: FOLIC ACID
     Dosage: 15 MILLIGRAM
     Route: 064
  161. FOLIC ACID [Concomitant]
     Active Substance: FOLIC ACID
     Dosage: UNK
     Route: 064
  162. FOLIC ACID [Concomitant]
     Active Substance: FOLIC ACID
     Route: 064
  163. FOLIC ACID [Concomitant]
     Active Substance: FOLIC ACID
     Route: 064
  164. FOLIC ACID [Concomitant]
     Active Substance: FOLIC ACID
     Route: 064
  165. FOLIC ACID [Concomitant]
     Active Substance: FOLIC ACID
     Route: 064
  166. METHOTREXATE [Concomitant]
     Active Substance: METHOTREXATE
     Indication: Product used for unknown indication
     Dosage: UNK
     Route: 064
  167. METHOTREXATE [Concomitant]
     Active Substance: METHOTREXATE
     Dosage: 25 MILLIGRAM, QD
     Route: 064
  168. METHOTREXATE [Concomitant]
     Active Substance: METHOTREXATE
     Dosage: 1 GRAM, BID
     Route: 064
  169. METHOTREXATE [Concomitant]
     Active Substance: METHOTREXATE
     Route: 064
  170. METHOTREXATE [Concomitant]
     Active Substance: METHOTREXATE
     Route: 064
  171. METHOTREXATE [Concomitant]
     Active Substance: METHOTREXATE
     Route: 064
  172. METHOTREXATE [Concomitant]
     Active Substance: METHOTREXATE
     Route: 064
  173. METHOTREXATE [Concomitant]
     Active Substance: METHOTREXATE
     Route: 064
  174. METHOTREXATE [Concomitant]
     Active Substance: METHOTREXATE
     Route: 064
  175. METHOTREXATE [Concomitant]
     Active Substance: METHOTREXATE
     Route: 064
  176. METHOTREXATE [Concomitant]
     Active Substance: METHOTREXATE
     Route: 064
  177. PREDNISONE [Concomitant]
     Active Substance: PREDNISONE
     Indication: Product used for unknown indication
     Dosage: UNK
     Route: 064
  178. PREDNISONE [Concomitant]
     Active Substance: PREDNISONE
     Dosage: 400 MILLIGRAM
     Route: 064
  179. PREDNISONE [Concomitant]
     Active Substance: PREDNISONE
     Dosage: 5 MILLIGRAM
     Route: 064
  180. PREDNISONE [Concomitant]
     Active Substance: PREDNISONE
     Dosage: 40 MILLIGRAM
     Route: 064
  181. PREDNISONE [Concomitant]
     Active Substance: PREDNISONE
     Dosage: 1 MILLIGRAM
     Route: 064
  182. PREDNISONE [Concomitant]
     Active Substance: PREDNISONE
     Dosage: UNK
     Route: 064
  183. PREDNISONE [Concomitant]
     Active Substance: PREDNISONE
     Dosage: UNK
     Route: 064
  184. PREDNISONE [Concomitant]
     Active Substance: PREDNISONE
     Dosage: 40 MILLIGRAM
     Route: 064
  185. PREDNISONE [Concomitant]
     Active Substance: PREDNISONE
     Route: 064
  186. PREDNISONE [Concomitant]
     Active Substance: PREDNISONE
     Route: 064
  187. PREDNISONE [Concomitant]
     Active Substance: PREDNISONE
     Route: 064
  188. PREDNISONE [Concomitant]
     Active Substance: PREDNISONE
     Route: 064
  189. PREDNISONE [Concomitant]
     Active Substance: PREDNISONE
     Route: 064
  190. PREDNISONE [Concomitant]
     Active Substance: PREDNISONE
     Route: 064
  191. PREDNISONE [Concomitant]
     Active Substance: PREDNISONE
     Route: 064
  192. PREDNISONE [Concomitant]
     Active Substance: PREDNISONE
     Route: 064
  193. FOSAMAX [Concomitant]
     Active Substance: ALENDRONATE SODIUM
     Indication: Product used for unknown indication
     Dosage: UNK
     Route: 064
  194. FOSAMAX [Concomitant]
     Active Substance: ALENDRONATE SODIUM
     Dosage: UNK
     Route: 064
  195. FOSAMAX [Concomitant]
     Active Substance: ALENDRONATE SODIUM
     Dosage: UNK
     Route: 064
  196. FOSAMAX [Concomitant]
     Active Substance: ALENDRONATE SODIUM
     Route: 064
  197. FOSAMAX [Concomitant]
     Active Substance: ALENDRONATE SODIUM
     Dosage: UNK
     Route: 064
  198. FOSAMAX [Concomitant]
     Active Substance: ALENDRONATE SODIUM
     Dosage: UNK
     Route: 064
  199. CETIRIZINE HYDROCHLORIDE [Concomitant]
     Active Substance: CETIRIZINE HYDROCHLORIDE
     Indication: Product used for unknown indication
     Dosage: UNK
     Route: 064
  200. CETIRIZINE HYDROCHLORIDE [Concomitant]
     Active Substance: CETIRIZINE HYDROCHLORIDE
     Dosage: 10 MILLIGRAM
     Route: 064
  201. CETIRIZINE HYDROCHLORIDE [Concomitant]
     Active Substance: CETIRIZINE HYDROCHLORIDE
     Dosage: 20 MILLIGRAM
     Route: 064
  202. CETIRIZINE HYDROCHLORIDE [Concomitant]
     Active Substance: CETIRIZINE HYDROCHLORIDE
     Route: 064
  203. CETIRIZINE HYDROCHLORIDE [Concomitant]
     Active Substance: CETIRIZINE HYDROCHLORIDE
     Route: 064
  204. HYDROXYCHLOROQUINE [Concomitant]
     Active Substance: HYDROXYCHLOROQUINE
     Indication: Product used for unknown indication
     Route: 064
  205. HYDROXYCHLOROQUINE [Concomitant]
     Active Substance: HYDROXYCHLOROQUINE
     Route: 064
  206. HYDROXYCHLOROQUINE [Concomitant]
     Active Substance: HYDROXYCHLOROQUINE
     Route: 064
  207. SIMPONI [Concomitant]
     Active Substance: GOLIMUMAB
     Indication: Product used for unknown indication
     Route: 064
  208. SIMPONI [Concomitant]
     Active Substance: GOLIMUMAB
     Route: 064
  209. SIMPONI [Concomitant]
     Active Substance: GOLIMUMAB
     Route: 064
  210. SIMPONI [Concomitant]
     Active Substance: GOLIMUMAB
     Route: 064
  211. SIMPONI [Concomitant]
     Active Substance: GOLIMUMAB
     Route: 064
  212. DESOXIMETASONE [Concomitant]
     Active Substance: DESOXIMETASONE
     Indication: Product used for unknown indication
     Dosage: UNK
     Route: 064
  213. DESOXIMETASONE [Concomitant]
     Active Substance: DESOXIMETASONE
     Dosage: UNK
     Route: 064
  214. DESOXIMETASONE [Concomitant]
     Active Substance: DESOXIMETASONE
     Dosage: 25 MILLIGRAM
     Route: 064
  215. DESOXIMETASONE [Concomitant]
     Active Substance: DESOXIMETASONE
     Dosage: UNK
     Route: 064
  216. DESOXIMETASONE [Concomitant]
     Active Substance: DESOXIMETASONE
     Route: 064
  217. DESOXIMETASONE [Concomitant]
     Active Substance: DESOXIMETASONE
     Route: 064
  218. DESOXIMETASONE [Concomitant]
     Active Substance: DESOXIMETASONE
     Route: 064
  219. DESOXIMETASONE [Concomitant]
     Active Substance: DESOXIMETASONE
     Route: 064
  220. SULFASALAZINE [Concomitant]
     Active Substance: SULFASALAZINE
     Indication: Product used for unknown indication
     Route: 064
  221. SULFASALAZINE [Concomitant]
     Active Substance: SULFASALAZINE
     Dosage: 1 G, BID
     Route: 064
  222. SULFASALAZINE [Concomitant]
     Active Substance: SULFASALAZINE
     Dosage: 1 G, BID
     Route: 064
  223. SULFASALAZINE [Concomitant]
     Active Substance: SULFASALAZINE
     Dosage: UNK
     Route: 064
  224. SULFASALAZINE [Concomitant]
     Active Substance: SULFASALAZINE
     Dosage: UNK
     Route: 064
  225. SULFASALAZINE [Concomitant]
     Active Substance: SULFASALAZINE
     Route: 064
  226. SULFASALAZINE [Concomitant]
     Active Substance: SULFASALAZINE
     Route: 064
  227. SULFASALAZINE [Concomitant]
     Active Substance: SULFASALAZINE
     Route: 064
  228. SULFASALAZINE [Concomitant]
     Active Substance: SULFASALAZINE
     Route: 064
  229. SULFASALAZINE [Concomitant]
     Active Substance: SULFASALAZINE
     Route: 064
  230. SULFASALAZINE [Concomitant]
     Active Substance: SULFASALAZINE
     Route: 064
  231. SULFASALAZINE [Concomitant]
     Active Substance: SULFASALAZINE
     Route: 064
  232. SULFASALAZINE [Concomitant]
     Active Substance: SULFASALAZINE
     Route: 064
  233. SULFASALAZINE [Concomitant]
     Active Substance: SULFASALAZINE
     Route: 064
  234. SULFASALAZINE [Concomitant]
     Active Substance: SULFASALAZINE
     Route: 064
  235. SULFASALAZINE [Concomitant]
     Active Substance: SULFASALAZINE
     Route: 064
  236. SULFASALAZINE [Concomitant]
     Active Substance: SULFASALAZINE
     Route: 064
  237. SULFASALAZINE [Concomitant]
     Active Substance: SULFASALAZINE
     Route: 064
  238. SULFASALAZINE [Concomitant]
     Active Substance: SULFASALAZINE
     Route: 064
  239. SULFASALAZINE [Concomitant]
     Active Substance: SULFASALAZINE
     Route: 064
  240. CETIRIZINE HYDROCHLORIDE [Concomitant]
     Active Substance: CETIRIZINE HYDROCHLORIDE
     Indication: Product used for unknown indication
     Dosage: UNK
     Route: 064
  241. CETIRIZINE HYDROCHLORIDE [Concomitant]
     Active Substance: CETIRIZINE HYDROCHLORIDE
     Route: 064
  242. CETIRIZINE HYDROCHLORIDE [Concomitant]
     Active Substance: CETIRIZINE HYDROCHLORIDE
     Route: 064
  243. CETIRIZINE HYDROCHLORIDE [Concomitant]
     Active Substance: CETIRIZINE HYDROCHLORIDE
     Route: 064
  244. CETIRIZINE HYDROCHLORIDE [Concomitant]
     Active Substance: CETIRIZINE HYDROCHLORIDE
     Route: 064
  245. HYDROXYCHLOROQUINE [Concomitant]
     Active Substance: HYDROXYCHLOROQUINE
     Indication: Product used for unknown indication
     Route: 064
  246. HYDROXYCHLOROQUINE [Concomitant]
     Active Substance: HYDROXYCHLOROQUINE
     Route: 064
  247. HYDROXYCHLOROQUINE [Concomitant]
     Active Substance: HYDROXYCHLOROQUINE
     Route: 064
  248. HYDROXYCHLOROQUINE [Concomitant]
     Active Substance: HYDROXYCHLOROQUINE
     Dosage: UNK
     Route: 064
  249. HYDROXYCHLOROQUINE [Concomitant]
     Active Substance: HYDROXYCHLOROQUINE
     Route: 064
  250. HYDROXYCHLOROQUINE [Concomitant]
     Active Substance: HYDROXYCHLOROQUINE
     Route: 064
  251. HYDROXYCHLOROQUINE [Concomitant]
     Active Substance: HYDROXYCHLOROQUINE
     Route: 064
  252. HYDROXYCHLOROQUINE [Concomitant]
     Active Substance: HYDROXYCHLOROQUINE
     Route: 064
  253. HYDROXYCHLOROQUINE [Concomitant]
     Active Substance: HYDROXYCHLOROQUINE
     Route: 064
  254. HYDROXYCHLOROQUINE [Concomitant]
     Active Substance: HYDROXYCHLOROQUINE
     Route: 064
  255. HYDROXYCHLOROQUINE [Concomitant]
     Active Substance: HYDROXYCHLOROQUINE
     Route: 064
  256. HYDROXYCHLOROQUINE [Concomitant]
     Active Substance: HYDROXYCHLOROQUINE
     Route: 064
  257. METHOTREXATE [Concomitant]
     Active Substance: METHOTREXATE
     Indication: Product used for unknown indication
     Route: 064
  258. METHOTREXATE [Concomitant]
     Active Substance: METHOTREXATE
     Dosage: 20 MILLIGRAM, QD
     Route: 064
  259. METHOTREXATE [Concomitant]
     Active Substance: METHOTREXATE
     Route: 064
  260. METHOTREXATE [Concomitant]
     Active Substance: METHOTREXATE
     Dosage: 25 MILLIGRAM
     Route: 064
  261. METHOTREXATE [Concomitant]
     Active Substance: METHOTREXATE
     Dosage: UNK
     Route: 064
  262. METHOTREXATE [Concomitant]
     Active Substance: METHOTREXATE
     Dosage: UNK
     Route: 064
  263. METHOTREXATE [Concomitant]
     Active Substance: METHOTREXATE
     Dosage: 25 MILLIGRAM
     Route: 064
  264. METHOTREXATE [Concomitant]
     Active Substance: METHOTREXATE
     Dosage: UNK
     Route: 064
  265. METHOTREXATE [Concomitant]
     Active Substance: METHOTREXATE
     Dosage: 20 MILLIGRAM
     Route: 064
  266. METHOTREXATE [Concomitant]
     Active Substance: METHOTREXATE
     Dosage: 25 MILLIGRAM, QWK
     Route: 064
  267. METHOTREXATE [Concomitant]
     Active Substance: METHOTREXATE
     Dosage: 25 MILLIGRAM
     Route: 064
  268. METHOTREXATE [Concomitant]
     Active Substance: METHOTREXATE
     Dosage: 15 MILLIGRAM
     Route: 064
  269. METHOTREXATE [Concomitant]
     Active Substance: METHOTREXATE
     Route: 064
  270. METHOTREXATE [Concomitant]
     Active Substance: METHOTREXATE
     Route: 064
  271. METHOTREXATE [Concomitant]
     Active Substance: METHOTREXATE
     Route: 064
  272. METHOTREXATE [Concomitant]
     Active Substance: METHOTREXATE
     Route: 064
  273. METHOTREXATE [Concomitant]
     Active Substance: METHOTREXATE
     Route: 064
  274. METHOTREXATE [Concomitant]
     Active Substance: METHOTREXATE
     Route: 064
  275. HYDROXYCHLOROQUINE DIPHOSPHATE [Concomitant]
     Active Substance: HYDROXYCHLOROQUINE DIPHOSPHATE
     Indication: Product used for unknown indication
     Route: 064
  276. HYDROXYCHLOROQUINE DIPHOSPHATE [Concomitant]
     Active Substance: HYDROXYCHLOROQUINE DIPHOSPHATE
     Route: 064
  277. HYDROXYCHLOROQUINE DIPHOSPHATE [Concomitant]
     Active Substance: HYDROXYCHLOROQUINE DIPHOSPHATE
     Dosage: 400 MILLIGRAM, QD
     Route: 064
  278. HYDROXYCHLOROQUINE DIPHOSPHATE [Concomitant]
     Active Substance: HYDROXYCHLOROQUINE DIPHOSPHATE
     Dosage: UNK
     Route: 064
  279. HYDROCORTISONE ACETATE [Concomitant]
     Active Substance: HYDROCORTISONE ACETATE
     Indication: Product used for unknown indication
     Dosage: UNK
     Route: 064
  280. HYDROCORTISONE ACETATE [Concomitant]
     Active Substance: HYDROCORTISONE ACETATE
     Dosage: UNK
     Route: 064
  281. HYDROCORTISONE ACETATE [Concomitant]
     Active Substance: HYDROCORTISONE ACETATE
     Dosage: UNK
     Route: 064
  282. HYDROCORTISONE ACETATE [Concomitant]
     Active Substance: HYDROCORTISONE ACETATE
     Dosage: UNK
     Route: 064
  283. HYDROCORTISONE ACETATE [Concomitant]
     Active Substance: HYDROCORTISONE ACETATE
     Route: 064
  284. HYDROCORTISONE ACETATE [Concomitant]
     Active Substance: HYDROCORTISONE ACETATE
     Route: 064
  285. HYDROCORTISONE ACETATE [Concomitant]
     Active Substance: HYDROCORTISONE ACETATE
     Dosage: UNK
     Route: 064
  286. HYDROCORTISONE ACETATE [Concomitant]
     Active Substance: HYDROCORTISONE ACETATE
     Dosage: UNK
     Route: 064
  287. HYDROCORTISONE ACETATE [Concomitant]
     Active Substance: HYDROCORTISONE ACETATE
     Route: 064
  288. HYDROCORTISONE ACETATE [Concomitant]
     Active Substance: HYDROCORTISONE ACETATE
     Route: 064
  289. HYDROCORTISONE ACETATE [Concomitant]
     Active Substance: HYDROCORTISONE ACETATE
     Dosage: UNK
     Route: 064
  290. HYDROCORTISONE ACETATE [Concomitant]
     Active Substance: HYDROCORTISONE ACETATE
     Dosage: UNK
     Route: 064
  291. PHTHALYLSULFATHIAZOLE [Concomitant]
     Active Substance: PHTHALYLSULFATHIAZOLE
     Indication: Product used for unknown indication
     Dosage: UNK
     Route: 064
  292. PHTHALYLSULFATHIAZOLE [Concomitant]
     Active Substance: PHTHALYLSULFATHIAZOLE
     Dosage: UNK
     Route: 064
  293. PHTHALYLSULFATHIAZOLE [Concomitant]
     Active Substance: PHTHALYLSULFATHIAZOLE
     Dosage: UNK
     Route: 064
  294. PHTHALYLSULFATHIAZOLE [Concomitant]
     Active Substance: PHTHALYLSULFATHIAZOLE
     Dosage: 500 MILLIGRAM
     Route: 064
  295. PHTHALYLSULFATHIAZOLE [Concomitant]
     Active Substance: PHTHALYLSULFATHIAZOLE
     Dosage: 1000 MILLIGRAM, BID
     Route: 064
  296. PHTHALYLSULFATHIAZOLE [Concomitant]
     Active Substance: PHTHALYLSULFATHIAZOLE
     Dosage: UNK
     Route: 064
  297. PHTHALYLSULFATHIAZOLE [Concomitant]
     Active Substance: PHTHALYLSULFATHIAZOLE
     Route: 064
  298. PHTHALYLSULFATHIAZOLE [Concomitant]
     Active Substance: PHTHALYLSULFATHIAZOLE
     Dosage: UNK
     Route: 064
  299. PHTHALYLSULFATHIAZOLE [Concomitant]
     Active Substance: PHTHALYLSULFATHIAZOLE
     Route: 064
  300. PHTHALYLSULFATHIAZOLE [Concomitant]
     Active Substance: PHTHALYLSULFATHIAZOLE
     Route: 064
  301. PHTHALYLSULFATHIAZOLE [Concomitant]
     Active Substance: PHTHALYLSULFATHIAZOLE
     Route: 064
  302. PHTHALYLSULFATHIAZOLE [Concomitant]
     Active Substance: PHTHALYLSULFATHIAZOLE
     Route: 064
  303. PHTHALYLSULFATHIAZOLE [Concomitant]
     Active Substance: PHTHALYLSULFATHIAZOLE
     Route: 064
  304. PHTHALYLSULFATHIAZOLE [Concomitant]
     Active Substance: PHTHALYLSULFATHIAZOLE
     Route: 064
  305. PHTHALYLSULFATHIAZOLE [Concomitant]
     Active Substance: PHTHALYLSULFATHIAZOLE
     Route: 064
  306. PHTHALYLSULFATHIAZOLE [Concomitant]
     Active Substance: PHTHALYLSULFATHIAZOLE
     Route: 064
  307. PHTHALYLSULFATHIAZOLE [Concomitant]
     Active Substance: PHTHALYLSULFATHIAZOLE
     Route: 064
  308. PHTHALYLSULFATHIAZOLE [Concomitant]
     Active Substance: PHTHALYLSULFATHIAZOLE
     Route: 064
  309. PHTHALYLSULFATHIAZOLE [Concomitant]
     Active Substance: PHTHALYLSULFATHIAZOLE
     Route: 064
  310. LEFLUNOMIDE [Concomitant]
     Active Substance: LEFLUNOMIDE
     Indication: Product used for unknown indication
     Dosage: UNK
     Route: 064
  311. LEFLUNOMIDE [Concomitant]
     Active Substance: LEFLUNOMIDE
     Dosage: UNK
     Route: 064
  312. LEFLUNOMIDE [Concomitant]
     Active Substance: LEFLUNOMIDE
     Route: 064
  313. LEFLUNOMIDE [Concomitant]
     Active Substance: LEFLUNOMIDE
     Route: 064
  314. LEFLUNOMIDE [Concomitant]
     Active Substance: LEFLUNOMIDE
     Route: 064
  315. LEFLUNOMIDE [Concomitant]
     Active Substance: LEFLUNOMIDE
     Route: 064
  316. LEFLUNOMIDE [Concomitant]
     Active Substance: LEFLUNOMIDE
     Dosage: UNK
     Route: 064
  317. LEFLUNOMIDE [Concomitant]
     Active Substance: LEFLUNOMIDE
     Dosage: UNK
     Route: 064
  318. HUMIRA [Concomitant]
     Active Substance: ADALIMUMAB
     Indication: Product used for unknown indication
     Dosage: UNK
     Route: 064
  319. HUMIRA [Concomitant]
     Active Substance: ADALIMUMAB
     Dosage: UNK
     Route: 064
  320. HUMIRA [Concomitant]
     Active Substance: ADALIMUMAB
     Dosage: 40 MILLIGRAM
     Route: 064
  321. HUMIRA [Concomitant]
     Active Substance: ADALIMUMAB
     Dosage: 40 MILLIGRAM
     Route: 064
  322. HUMIRA [Concomitant]
     Active Substance: ADALIMUMAB
     Dosage: SOLUTION FOR INJECTION/SOLUTION FOR INFUSION
     Route: 064
  323. HUMIRA [Concomitant]
     Active Substance: ADALIMUMAB
     Dosage: SOLUTION FOR INJECTION/INFUSION
     Route: 064
  324. HUMIRA [Concomitant]
     Active Substance: ADALIMUMAB
     Dosage: SOLUTION FOR INJECTION/INFUSION
     Route: 064
  325. HUMIRA [Concomitant]
     Active Substance: ADALIMUMAB
     Route: 064
  326. HUMIRA [Concomitant]
     Active Substance: ADALIMUMAB
     Route: 064
  327. HUMIRA [Concomitant]
     Active Substance: ADALIMUMAB
     Route: 064
  328. XELJANZ [Concomitant]
     Active Substance: TOFACITINIB CITRATE
     Indication: Product used for unknown indication
     Dosage: UNK
     Route: 064
  329. XELJANZ [Concomitant]
     Active Substance: TOFACITINIB CITRATE
     Dosage: 5 MILLIGRAM, BID
     Route: 064
  330. XELJANZ [Concomitant]
     Active Substance: TOFACITINIB CITRATE
     Route: 064
  331. XELJANZ [Concomitant]
     Active Substance: TOFACITINIB CITRATE
     Dosage: 5 MILLIGRAM
     Route: 064
  332. XELJANZ [Concomitant]
     Active Substance: TOFACITINIB CITRATE
     Route: 064
  333. XELJANZ [Concomitant]
     Active Substance: TOFACITINIB CITRATE
     Route: 064
  334. XELJANZ [Concomitant]
     Active Substance: TOFACITINIB CITRATE
     Route: 064
  335. XELJANZ [Concomitant]
     Active Substance: TOFACITINIB CITRATE
     Route: 064
  336. XELJANZ [Concomitant]
     Active Substance: TOFACITINIB CITRATE
     Route: 064
  337. XELJANZ [Concomitant]
     Active Substance: TOFACITINIB CITRATE
     Route: 064
  338. XELJANZ [Concomitant]
     Active Substance: TOFACITINIB CITRATE
     Route: 064
  339. XELJANZ [Concomitant]
     Active Substance: TOFACITINIB CITRATE
     Route: 064
  340. XELJANZ [Concomitant]
     Active Substance: TOFACITINIB CITRATE
     Route: 064
  341. XELJANZ [Concomitant]
     Active Substance: TOFACITINIB CITRATE
     Route: 064
  342. XELJANZ [Concomitant]
     Active Substance: TOFACITINIB CITRATE
     Route: 064
  343. XELJANZ [Concomitant]
     Active Substance: TOFACITINIB CITRATE
     Route: 064
  344. XELJANZ [Concomitant]
     Active Substance: TOFACITINIB CITRATE
     Route: 064
  345. XELJANZ [Concomitant]
     Active Substance: TOFACITINIB CITRATE
     Route: 064
  346. XELJANZ [Concomitant]
     Active Substance: TOFACITINIB CITRATE
     Route: 064
  347. XELJANZ [Concomitant]
     Active Substance: TOFACITINIB CITRATE
     Route: 064
  348. XELJANZ [Concomitant]
     Active Substance: TOFACITINIB CITRATE
     Route: 064
  349. XELJANZ [Concomitant]
     Active Substance: TOFACITINIB CITRATE
     Dosage: UNK
     Route: 064
  350. ACETAMINOPHEN [Concomitant]
     Active Substance: ACETAMINOPHEN
     Indication: Product used for unknown indication
     Route: 064
  351. ACETAMINOPHEN [Concomitant]
     Active Substance: ACETAMINOPHEN
     Route: 064
  352. ACETAMINOPHEN [Concomitant]
     Active Substance: ACETAMINOPHEN
     Route: 064
  353. ACETAMINOPHEN [Concomitant]
     Active Substance: ACETAMINOPHEN
     Route: 064
  354. HUMIRA [Concomitant]
     Active Substance: ADALIMUMAB
     Indication: Product used for unknown indication
     Dosage: SOLUTION SUBCUTANEOUS
     Route: 064
  355. ADALIMUMAB [Concomitant]
     Active Substance: ADALIMUMAB
     Indication: Product used for unknown indication
     Route: 064
  356. ADALIMUMAB [Concomitant]
     Active Substance: ADALIMUMAB
     Route: 064
  357. ADALIMUMAB [Concomitant]
     Active Substance: ADALIMUMAB
     Route: 064
  358. ADALIMUMAB [Concomitant]
     Active Substance: ADALIMUMAB
     Route: 064
  359. ADALIMUMAB [Concomitant]
     Active Substance: ADALIMUMAB
     Route: 064
  360. ADALIMUMAB [Concomitant]
     Active Substance: ADALIMUMAB
     Route: 064
  361. CELEBREX [Concomitant]
     Active Substance: CELECOXIB
     Indication: Product used for unknown indication
     Route: 064
  362. CELEBREX [Concomitant]
     Active Substance: CELECOXIB
     Route: 064
  363. CELEBREX [Concomitant]
     Active Substance: CELECOXIB
     Route: 064
  364. CELEBREX [Concomitant]
     Active Substance: CELECOXIB
     Route: 064
  365. CELEBREX [Concomitant]
     Active Substance: CELECOXIB
     Route: 064
  366. ALENDRONATE SODIUM [Concomitant]
     Active Substance: ALENDRONATE SODIUM
     Indication: Product used for unknown indication
     Route: 064
  367. ALENDRONATE SODIUM [Concomitant]
     Active Substance: ALENDRONATE SODIUM
     Dosage: UNK
     Route: 064
  368. ALENDRONATE SODIUM [Concomitant]
     Active Substance: ALENDRONATE SODIUM
     Dosage: 1 MILLIGRAM
     Route: 064
  369. ALENDRONATE SODIUM [Concomitant]
     Active Substance: ALENDRONATE SODIUM
     Route: 064
  370. ALENDRONATE SODIUM [Concomitant]
     Active Substance: ALENDRONATE SODIUM
     Route: 064
  371. ALENDRONATE SODIUM [Concomitant]
     Active Substance: ALENDRONATE SODIUM
     Route: 064
  372. ALENDRONATE SODIUM [Concomitant]
     Active Substance: ALENDRONATE SODIUM
     Route: 064
  373. ALENDRONATE SODIUM [Concomitant]
     Active Substance: ALENDRONATE SODIUM
     Dosage: SOLUTION SUBCUTANEOUS
     Route: 064
  374. FOLIC ACID [Concomitant]
     Active Substance: FOLIC ACID
     Indication: Product used for unknown indication
     Dosage: 1 MILLIGRAM
     Route: 064
  375. FOLIC ACID [Concomitant]
     Active Substance: FOLIC ACID
     Dosage: 5 MILLIGRAM
     Route: 064
  376. FOLIC ACID [Concomitant]
     Active Substance: FOLIC ACID
     Dosage: 15 MILLIGRAM
     Route: 064
  377. HYDROXYCHLOROQUINE SULFATE [Concomitant]
     Active Substance: HYDROXYCHLOROQUINE SULFATE
     Indication: Product used for unknown indication
     Dosage: UNK
     Route: 064
  378. HYDROXYCHLOROQUINE SULFATE [Concomitant]
     Active Substance: HYDROXYCHLOROQUINE SULFATE
     Dosage: 400 MILLIGRAM, QD
     Route: 064
  379. LEFLUNOMIDE [Concomitant]
     Active Substance: LEFLUNOMIDE
     Indication: Product used for unknown indication
     Dosage: UNK
     Route: 064
  380. LEFLUNOMIDE [Concomitant]
     Active Substance: LEFLUNOMIDE
     Dosage: UNK
     Route: 064
  381. CETIRIZINE HYDROCHLORIDE\PSEUDOEPHEDRINE HYDROCHLORIDE [Concomitant]
     Active Substance: CETIRIZINE HYDROCHLORIDE\PSEUDOEPHEDRINE HYDROCHLORIDE
     Indication: Product used for unknown indication
     Dosage: UNK
     Route: 064
  382. PREDNISONE [Concomitant]
     Active Substance: PREDNISONE
     Indication: Product used for unknown indication
     Route: 064
  383. PREDNISONE [Concomitant]
     Active Substance: PREDNISONE
     Dosage: 5 MILLIGRAM
     Route: 064
  384. PREDNISONE [Concomitant]
     Active Substance: PREDNISONE
     Dosage: UNK
     Route: 064
  385. PREDNISONE [Concomitant]
     Active Substance: PREDNISONE
     Dosage: UNK
     Route: 064
  386. PREDNISONE [Concomitant]
     Active Substance: PREDNISONE
     Dosage: UNK
     Route: 064
  387. PREDNISONE [Concomitant]
     Active Substance: PREDNISONE
     Dosage: UNK
     Route: 064
  388. PREDNISONE [Concomitant]
     Active Substance: PREDNISONE
     Dosage: UNK
     Route: 064
  389. PREDNISONE [Concomitant]
     Active Substance: PREDNISONE
     Dosage: UNK
     Route: 064
  390. PREDNISONE [Concomitant]
     Active Substance: PREDNISONE
     Dosage: UNK
     Route: 064
  391. PREDNISONE [Concomitant]
     Active Substance: PREDNISONE
     Route: 064
  392. CIMZIA [Concomitant]
     Active Substance: CERTOLIZUMAB PEGOL
     Indication: Product used for unknown indication
     Dosage: UNK
     Route: 064
  393. CIMZIA [Concomitant]
     Active Substance: CERTOLIZUMAB PEGOL
     Route: 064
  394. CERTOLIZUMAB PEGOL [Concomitant]
     Active Substance: CERTOLIZUMAB PEGOL
     Indication: Product used for unknown indication
     Route: 064
  395. CETIRIZINE HYDROCHLORIDE [Concomitant]
     Active Substance: CETIRIZINE HYDROCHLORIDE
     Indication: Product used for unknown indication
     Dosage: UNK
     Route: 064
  396. CETIRIZINE HYDROCHLORIDE [Concomitant]
     Active Substance: CETIRIZINE HYDROCHLORIDE
     Dosage: UNK
     Route: 064
  397. CETIRIZINE HYDROCHLORIDE [Concomitant]
     Active Substance: CETIRIZINE HYDROCHLORIDE
     Dosage: 10 MILLIGRAM
     Route: 064
  398. CETIRIZINE HYDROCHLORIDE [Concomitant]
     Active Substance: CETIRIZINE HYDROCHLORIDE
     Dosage: 25 GRAM
     Route: 064
  399. CETIRIZINE HYDROCHLORIDE [Concomitant]
     Active Substance: CETIRIZINE HYDROCHLORIDE
     Route: 064
  400. CETIRIZINE HYDROCHLORIDE [Concomitant]
     Active Substance: CETIRIZINE HYDROCHLORIDE
     Route: 064
  401. CETIRIZINE HYDROCHLORIDE [Concomitant]
     Active Substance: CETIRIZINE HYDROCHLORIDE
     Route: 064
  402. CETIRIZINE [Concomitant]
     Active Substance: CETIRIZINE HYDROCHLORIDE
     Indication: Product used for unknown indication
     Route: 064
  403. CETIRIZINE [Concomitant]
     Active Substance: CETIRIZINE HYDROCHLORIDE
     Route: 064
  404. CETIRIZINE [Concomitant]
     Active Substance: CETIRIZINE HYDROCHLORIDE
     Route: 064
  405. CETIRIZINE [Concomitant]
     Active Substance: CETIRIZINE HYDROCHLORIDE
     Route: 064
  406. CETIRIZINE [Concomitant]
     Active Substance: CETIRIZINE HYDROCHLORIDE
     Route: 064
  407. CETIRIZINE [Concomitant]
     Active Substance: CETIRIZINE HYDROCHLORIDE
     Route: 064
  408. CETIRIZINE [Concomitant]
     Active Substance: CETIRIZINE HYDROCHLORIDE
     Route: 064
  409. CETIRIZINE [Concomitant]
     Active Substance: CETIRIZINE HYDROCHLORIDE
     Route: 064
  410. CETIRIZINE [Concomitant]
     Active Substance: CETIRIZINE HYDROCHLORIDE
     Route: 064
  411. CETIRIZINE [Concomitant]
     Active Substance: CETIRIZINE HYDROCHLORIDE
     Route: 064
  412. CETIRIZINE [Concomitant]
     Active Substance: CETIRIZINE HYDROCHLORIDE
     Route: 064
  413. ZYRTEC [Concomitant]
     Active Substance: CETIRIZINE HYDROCHLORIDE
     Indication: Product used for unknown indication
     Dosage: 10 MILLIGRAM
     Route: 064
  414. CETIRIZINE HYDROCHLORIDE\PSEUDOEPHEDRINE HYDROCHLORIDE [Concomitant]
     Active Substance: CETIRIZINE HYDROCHLORIDE\PSEUDOEPHEDRINE HYDROCHLORIDE
     Indication: Product used for unknown indication
     Route: 064
  415. CETIRIZINE HYDROCHLORIDE\PSEUDOEPHEDRINE HYDROCHLORIDE [Concomitant]
     Active Substance: CETIRIZINE HYDROCHLORIDE\PSEUDOEPHEDRINE HYDROCHLORIDE
     Route: 064
  416. CETIRIZINE HYDROCHLORIDE\PSEUDOEPHEDRINE HYDROCHLORIDE [Concomitant]
     Active Substance: CETIRIZINE HYDROCHLORIDE\PSEUDOEPHEDRINE HYDROCHLORIDE
     Indication: Product used for unknown indication
     Route: 064
  417. CETIRIZINE HYDROCHLORIDE [Concomitant]
     Active Substance: CETIRIZINE HYDROCHLORIDE
     Indication: Product used for unknown indication
     Dosage: 10 MILLIGRAM
     Route: 064
  418. CETIRIZINE HYDROCHLORIDE [Concomitant]
     Active Substance: CETIRIZINE HYDROCHLORIDE
     Route: 064
  419. CETIRIZINE HYDROCHLORIDE [Concomitant]
     Active Substance: CETIRIZINE HYDROCHLORIDE
     Dosage: 10 MILLIGRAM
     Route: 064
  420. CETIRIZINE HYDROCHLORIDE [Concomitant]
     Active Substance: CETIRIZINE HYDROCHLORIDE
     Dosage: UNK
     Route: 064
  421. CETIRIZINE HYDROCHLORIDE [Concomitant]
     Active Substance: CETIRIZINE HYDROCHLORIDE
     Dosage: UNK
     Route: 064
  422. CETIRIZINE HYDROCHLORIDE [Concomitant]
     Active Substance: CETIRIZINE HYDROCHLORIDE
     Dosage: UNK
     Route: 064
  423. CETIRIZINE HYDROCHLORIDE [Concomitant]
     Active Substance: CETIRIZINE HYDROCHLORIDE
     Route: 064
  424. CETIRIZINE HYDROCHLORIDE [Concomitant]
     Active Substance: CETIRIZINE HYDROCHLORIDE
     Route: 064
  425. CETIRIZINE HYDROCHLORIDE [Concomitant]
     Active Substance: CETIRIZINE HYDROCHLORIDE
     Route: 064
  426. CETIRIZINE HYDROCHLORIDE [Concomitant]
     Active Substance: CETIRIZINE HYDROCHLORIDE
     Route: 064
  427. CETIRIZINE HYDROCHLORIDE [Concomitant]
     Active Substance: CETIRIZINE HYDROCHLORIDE
     Route: 064
  428. CETIRIZINE HYDROCHLORIDE [Concomitant]
     Active Substance: CETIRIZINE HYDROCHLORIDE
     Route: 064
  429. CETIRIZINE HYDROCHLORIDE [Concomitant]
     Active Substance: CETIRIZINE HYDROCHLORIDE
     Route: 064
  430. CETIRIZINE HYDROCHLORIDE [Concomitant]
     Active Substance: CETIRIZINE HYDROCHLORIDE
     Route: 064
  431. CETIRIZINE HYDROCHLORIDE [Concomitant]
     Active Substance: CETIRIZINE HYDROCHLORIDE
     Route: 064
  432. CETIRIZINE HYDROCHLORIDE [Concomitant]
     Active Substance: CETIRIZINE HYDROCHLORIDE
     Route: 064
  433. CETIRIZINE HYDROCHLORIDE [Concomitant]
     Active Substance: CETIRIZINE HYDROCHLORIDE
     Route: 064
  434. CETIRIZINE\IBUPROFEN\PHENYLEPHRINE [Concomitant]
     Active Substance: CETIRIZINE\IBUPROFEN\PHENYLEPHRINE
     Indication: Product used for unknown indication
     Dosage: 10 MILLIGRAM
     Route: 064
  435. CETIRIZINE\IBUPROFEN\PHENYLEPHRINE [Concomitant]
     Active Substance: CETIRIZINE\IBUPROFEN\PHENYLEPHRINE
     Dosage: 25 MILLIGRAM
     Route: 064
  436. CORTISONE [Concomitant]
     Active Substance: CORTISONE
     Indication: Product used for unknown indication
     Dosage: 25 MILLIGRAM
     Route: 064
  437. CORTISONE [Concomitant]
     Active Substance: CORTISONE
     Dosage: UNK UNK, PRN
     Route: 064
  438. CORTISONE [Concomitant]
     Active Substance: CORTISONE
     Route: 064
  439. CORTISONE [Concomitant]
     Active Substance: CORTISONE
     Route: 064
  440. CORTISONE [Concomitant]
     Active Substance: CORTISONE
     Route: 064
  441. CORTISONE [Concomitant]
     Active Substance: CORTISONE
     Route: 064
  442. CORTISONE ACETATE [Concomitant]
     Active Substance: CORTISONE ACETATE
     Indication: Product used for unknown indication
     Dosage: UNK
     Route: 064
  443. CORTISONE ACETATE [Concomitant]
     Active Substance: CORTISONE ACETATE
     Route: 064
  444. CORTISONE ACETATE [Concomitant]
     Active Substance: CORTISONE ACETATE
     Route: 064
  445. CORTISONE ACETATE [Concomitant]
     Active Substance: CORTISONE ACETATE
     Route: 064
  446. CORTISONE ACETATE [Concomitant]
     Active Substance: CORTISONE ACETATE
     Route: 064
  447. CORTISONE ACETATE [Concomitant]
     Active Substance: CORTISONE ACETATE
     Route: 064
  448. CORTISONE ACETATE [Concomitant]
     Active Substance: CORTISONE ACETATE
     Route: 064
  449. CORTISONE ACETATE [Concomitant]
     Active Substance: CORTISONE ACETATE
     Route: 064
  450. CORTISONE ACETATE [Concomitant]
     Active Substance: CORTISONE ACETATE
     Route: 064
  451. CORTISONE ACETATE [Concomitant]
     Active Substance: CORTISONE ACETATE
     Route: 064
  452. CORTISONE ACETATE [Concomitant]
     Active Substance: CORTISONE ACETATE
     Route: 064
  453. CORTISONE ACETATE [Concomitant]
     Active Substance: CORTISONE ACETATE
     Route: 064
  454. CORTISONE ACETATE [Concomitant]
     Active Substance: CORTISONE ACETATE
     Route: 064
  455. NAPROXEN SODIUM [Concomitant]
     Active Substance: NAPROXEN\NAPROXEN SODIUM
     Indication: Product used for unknown indication
     Dosage: UNK, QD
     Route: 064
  456. NAPROXEN SODIUM [Concomitant]
     Active Substance: NAPROXEN\NAPROXEN SODIUM
     Route: 064
  457. NAPROXEN SODIUM [Concomitant]
     Active Substance: NAPROXEN\NAPROXEN SODIUM
     Route: 064
  458. NAPROXEN SODIUM [Concomitant]
     Active Substance: NAPROXEN\NAPROXEN SODIUM
     Route: 064
  459. NAPROXEN SODIUM [Concomitant]
     Active Substance: NAPROXEN\NAPROXEN SODIUM
     Route: 064
  460. COSENTYX [Concomitant]
     Active Substance: SECUKINUMAB
     Indication: Product used for unknown indication
     Route: 064
  461. COSENTYX [Concomitant]
     Active Substance: SECUKINUMAB
     Route: 064
  462. COSENTYX [Concomitant]
     Active Substance: SECUKINUMAB
     Route: 064
  463. COSENTYX [Concomitant]
     Active Substance: SECUKINUMAB
     Route: 064
  464. COSENTYX [Concomitant]
     Active Substance: SECUKINUMAB
     Route: 064
  465. DESOXIMETASONE [Concomitant]
     Active Substance: DESOXIMETASONE
     Indication: Product used for unknown indication
     Dosage: 25 MILLIGRAM
     Route: 064
  466. DESOXIMETASONE [Concomitant]
     Active Substance: DESOXIMETASONE
     Dosage: UNK
     Route: 064
  467. DESOXIMETASONE [Concomitant]
     Active Substance: DESOXIMETASONE
     Dosage: UNK
     Route: 064
  468. DESOXIMETASONE [Concomitant]
     Active Substance: DESOXIMETASONE
     Dosage: 25 MILLIGRAM
     Route: 064
  469. DESOXIMETASONE [Concomitant]
     Active Substance: DESOXIMETASONE
     Dosage: 25 MILLIGRAM, QWK
     Route: 064
  470. DESOXIMETASONE [Concomitant]
     Active Substance: DESOXIMETASONE
     Dosage: 25 MILLIGRAM
     Route: 064
  471. DESOXIMETASONE [Concomitant]
     Active Substance: DESOXIMETASONE
     Route: 064
  472. DESOXIMETASONE [Concomitant]
     Active Substance: DESOXIMETASONE
     Route: 064
  473. DESOXIMETASONE [Concomitant]
     Active Substance: DESOXIMETASONE
     Route: 064
  474. DESOXIMETASONE [Concomitant]
     Active Substance: DESOXIMETASONE
     Route: 062
  475. DESOXIMETASONE [Concomitant]
     Active Substance: DESOXIMETASONE
     Route: 062
  476. DESOXIMETASONE [Concomitant]
     Active Substance: DESOXIMETASONE
     Route: 064
  477. DESOXIMETASONE [Concomitant]
     Active Substance: DESOXIMETASONE
     Route: 064
  478. DESOXIMETASONE [Concomitant]
     Active Substance: DESOXIMETASONE
     Route: 062
  479. DESOXIMETASONE [Concomitant]
     Active Substance: DESOXIMETASONE
     Route: 064
  480. DESOXIMETASONE [Concomitant]
     Active Substance: DESOXIMETASONE
     Route: 064
  481. DESOXIMETASONE [Concomitant]
     Active Substance: DESOXIMETASONE
     Route: 064
  482. DESOXIMETASONE [Concomitant]
     Active Substance: DESOXIMETASONE
     Route: 064
  483. DESOXIMETASONE [Concomitant]
     Active Substance: DESOXIMETASONE
     Route: 064
  484. DESOXIMETASONE [Concomitant]
     Active Substance: DESOXIMETASONE
     Route: 064
  485. DESOXIMETASONE [Concomitant]
     Active Substance: DESOXIMETASONE
     Route: 064
  486. DESOXIMETASONE [Concomitant]
     Active Substance: DESOXIMETASONE
     Route: 064
  487. DESOXIMETASONE [Concomitant]
     Active Substance: DESOXIMETASONE
     Route: 064
  488. DESOXIMETASONE [Concomitant]
     Active Substance: DESOXIMETASONE
     Route: 064
  489. DESOXIMETASONE [Concomitant]
     Active Substance: DESOXIMETASONE
     Route: 064
  490. DESOXIMETASONE [Concomitant]
     Active Substance: DESOXIMETASONE
     Route: 064
  491. DESOXIMETASONE [Concomitant]
     Active Substance: DESOXIMETASONE
     Route: 064
  492. DESOXIMETASONE [Concomitant]
     Active Substance: DESOXIMETASONE
     Route: 064
  493. DESOXIMETASONE [Concomitant]
     Active Substance: DESOXIMETASONE
     Route: 064
  494. DESOXIMETASONE [Concomitant]
     Active Substance: DESOXIMETASONE
     Route: 064
  495. DESOXIMETASONE [Concomitant]
     Active Substance: DESOXIMETASONE
     Route: 064
  496. DESOXIMETASONE [Concomitant]
     Active Substance: DESOXIMETASONE
     Indication: Product used for unknown indication
     Route: 064
  497. DICLOFENAC [Concomitant]
     Active Substance: DICLOFENAC
     Indication: Product used for unknown indication
     Route: 064
  498. DICLOFENAC [Concomitant]
     Active Substance: DICLOFENAC
     Route: 064
  499. DICLOFENAC [Concomitant]
     Active Substance: DICLOFENAC
     Route: 064
  500. DICLOFENAC SODIUM [Concomitant]
     Active Substance: DICLOFENAC\DICLOFENAC SODIUM
     Indication: Product used for unknown indication
     Dosage: UNK
     Route: 064
  501. DICLOFENAC SODIUM [Concomitant]
     Active Substance: DICLOFENAC\DICLOFENAC SODIUM
     Route: 064
  502. DICLOFENAC SODIUM [Concomitant]
     Active Substance: DICLOFENAC\DICLOFENAC SODIUM
     Route: 064
  503. DICLOFENAC SODIUM [Concomitant]
     Active Substance: DICLOFENAC\DICLOFENAC SODIUM
     Dosage: UNK
     Route: 064
  504. DICLOFENAC SODIUM [Concomitant]
     Active Substance: DICLOFENAC\DICLOFENAC SODIUM
     Route: 064
  505. DICLOFENAC SODIUM [Concomitant]
     Active Substance: DICLOFENAC\DICLOFENAC SODIUM
     Route: 064
  506. DICLOFENAC SODIUM [Concomitant]
     Active Substance: DICLOFENAC\DICLOFENAC SODIUM
     Route: 064
  507. ETANERCEPT [Concomitant]
     Active Substance: ETANERCEPT
     Indication: Product used for unknown indication
     Dosage: UNK
     Route: 064
  508. ETANERCEPT [Concomitant]
     Active Substance: ETANERCEPT
     Dosage: UNK
     Route: 064
  509. ETANERCEPT [Concomitant]
     Active Substance: ETANERCEPT
     Dosage: UNK
     Route: 064
  510. ENBREL [Concomitant]
     Active Substance: BENZYL ALCOHOL\ETANERCEPT
     Indication: Product used for unknown indication
     Route: 064
  511. ENBREL [Concomitant]
     Active Substance: BENZYL ALCOHOL\ETANERCEPT
     Route: 064
  512. ENBREL [Concomitant]
     Active Substance: BENZYL ALCOHOL\ETANERCEPT
     Dosage: UNK
     Route: 064
  513. ENBREL [Concomitant]
     Active Substance: BENZYL ALCOHOL\ETANERCEPT
     Route: 064
  514. ENBREL [Concomitant]
     Active Substance: BENZYL ALCOHOL\ETANERCEPT
     Route: 064
  515. ENBREL [Concomitant]
     Active Substance: BENZYL ALCOHOL\ETANERCEPT
     Route: 064
  516. ENBREL [Concomitant]
     Active Substance: BENZYL ALCOHOL\ETANERCEPT
     Route: 064
  517. ENBREL [Concomitant]
     Active Substance: BENZYL ALCOHOL\ETANERCEPT
     Route: 064
  518. ENBREL [Concomitant]
     Active Substance: BENZYL ALCOHOL\ETANERCEPT
     Route: 064
  519. ERELZI [Concomitant]
     Active Substance: ETANERCEPT-SZZS
     Indication: Product used for unknown indication
     Dosage: UNK
     Route: 064
  520. ERELZI [Concomitant]
     Active Substance: ETANERCEPT-SZZS
     Dosage: UNK
     Route: 064
  521. ERELZI [Concomitant]
     Active Substance: ETANERCEPT-SZZS
     Route: 064
  522. ERELZI [Concomitant]
     Active Substance: ETANERCEPT-SZZS
     Route: 064
  523. FOLIC ACID [Concomitant]
     Active Substance: FOLIC ACID
     Indication: Product used for unknown indication
     Dosage: 1 MILLIGRAM
     Route: 064
  524. FOLIC ACID [Concomitant]
     Active Substance: FOLIC ACID
     Dosage: 5 MILLIGRAM
     Route: 064
  525. FOLIC ACID [Concomitant]
     Active Substance: FOLIC ACID
     Dosage: 1 GRAM
     Route: 064
  526. FOLIC ACID [Concomitant]
     Active Substance: FOLIC ACID
     Route: 064
  527. FOLIC ACID [Concomitant]
     Active Substance: FOLIC ACID
     Route: 064
  528. FOLIC ACID [Concomitant]
     Active Substance: FOLIC ACID
     Dosage: UNK
     Route: 064
  529. FOLIC ACID [Concomitant]
     Active Substance: FOLIC ACID
     Dosage: UNK
     Route: 064
  530. FOLIC ACID [Concomitant]
     Active Substance: FOLIC ACID
     Route: 064
  531. FOLIC ACID [Concomitant]
     Active Substance: FOLIC ACID
     Route: 064
  532. FOLIC ACID [Concomitant]
     Active Substance: FOLIC ACID
     Route: 064
  533. FOLIC ACID [Concomitant]
     Active Substance: FOLIC ACID
     Dosage: 3 MILLIGRAM
     Route: 064
  534. FOLIC ACID [Concomitant]
     Active Substance: FOLIC ACID
     Route: 064
  535. FOLIC ACID [Concomitant]
     Active Substance: FOLIC ACID
     Route: 064
  536. FOLIC ACID [Concomitant]
     Active Substance: FOLIC ACID
     Route: 064
  537. FOLIC ACID [Concomitant]
     Active Substance: FOLIC ACID
     Route: 064
  538. FOLIC ACID [Concomitant]
     Active Substance: FOLIC ACID
     Route: 064
  539. FOLIC ACID [Concomitant]
     Active Substance: FOLIC ACID
     Route: 064
  540. FOLIC ACID [Concomitant]
     Active Substance: FOLIC ACID
     Route: 064
  541. FOLIC ACID [Concomitant]
     Active Substance: FOLIC ACID
     Route: 064
  542. FOLIC ACID [Concomitant]
     Active Substance: FOLIC ACID
     Route: 064
  543. FOLIC ACID [Concomitant]
     Active Substance: FOLIC ACID
     Route: 064
  544. FOLIC ACID [Concomitant]
     Active Substance: FOLIC ACID
     Route: 064
  545. FOLIC ACID [Concomitant]
     Active Substance: FOLIC ACID
     Route: 064
  546. FOLIC ACID [Concomitant]
     Active Substance: FOLIC ACID
     Route: 064
  547. FOLIC ACID [Concomitant]
     Active Substance: FOLIC ACID
     Route: 064
  548. GOLIMUMAB [Concomitant]
     Active Substance: GOLIMUMAB
     Indication: Product used for unknown indication
     Dosage: UNK
     Route: 064
  549. GOLIMUMAB [Concomitant]
     Active Substance: GOLIMUMAB
     Dosage: UNK
     Route: 064
  550. SIMPONI [Concomitant]
     Active Substance: GOLIMUMAB
     Indication: Product used for unknown indication
     Dosage: UNK
     Route: 064
  551. SIMPONI [Concomitant]
     Active Substance: GOLIMUMAB
     Dosage: UNK
     Route: 064
  552. SIMPONI [Concomitant]
     Active Substance: GOLIMUMAB
     Dosage: UNK
     Route: 064
  553. SIMPONI [Concomitant]
     Active Substance: GOLIMUMAB
     Route: 064
  554. SIMPONI [Concomitant]
     Active Substance: GOLIMUMAB
     Route: 064
  555. SIMPONI [Concomitant]
     Active Substance: GOLIMUMAB
     Route: 064
  556. SIMPONI [Concomitant]
     Active Substance: GOLIMUMAB
     Route: 064
  557. SIMPONI [Concomitant]
     Active Substance: GOLIMUMAB
     Route: 064
  558. SIMPONI [Concomitant]
     Active Substance: GOLIMUMAB
     Dosage: SOLUTION SUBCUTANEOUS
     Route: 064
  559. SIMPONI [Concomitant]
     Active Substance: GOLIMUMAB
     Dosage: SOLUTION SUBCUTANEOUS
     Route: 064
  560. HYDROCORTISONE ACETATE [Concomitant]
     Active Substance: HYDROCORTISONE ACETATE
     Indication: Product used for unknown indication
     Dosage: UNK
     Route: 064
  561. HYDROCORTISONE ACETATE [Concomitant]
     Active Substance: HYDROCORTISONE ACETATE
     Dosage: UNK
     Route: 064
  562. HYDROCORTISONE ACETATE [Concomitant]
     Active Substance: HYDROCORTISONE ACETATE
     Dosage: UNK
     Route: 064
  563. HYDROCORTISONE ACETATE [Concomitant]
     Active Substance: HYDROCORTISONE ACETATE
     Indication: Product used for unknown indication
     Route: 064
  564. HYDROCORTISONE ACETATE [Concomitant]
     Active Substance: HYDROCORTISONE ACETATE
     Route: 064
  565. HYDROCORTISONE ACETATE [Concomitant]
     Active Substance: HYDROCORTISONE ACETATE
     Route: 064
  566. HYDROCORTISONE ACETATE [Concomitant]
     Active Substance: HYDROCORTISONE ACETATE
     Route: 064
  567. HYDROCORTISONE ACETATE [Concomitant]
     Active Substance: HYDROCORTISONE ACETATE
     Route: 064
  568. HYDROCORTISONE ACETATE [Concomitant]
     Active Substance: HYDROCORTISONE ACETATE
     Route: 064
  569. HYDROCORTISONE ACETATE [Concomitant]
     Active Substance: HYDROCORTISONE ACETATE
     Route: 064
  570. HYDROCORTISONE ACETATE [Concomitant]
     Active Substance: HYDROCORTISONE ACETATE
     Route: 064
  571. HYDROCORTISONE ACETATE [Concomitant]
     Active Substance: HYDROCORTISONE ACETATE
     Route: 064
  572. HYDROXYCHLOROQUINE SULFATE [Concomitant]
     Active Substance: HYDROXYCHLOROQUINE SULFATE
     Indication: Product used for unknown indication
     Dosage: UNK
     Route: 064
  573. HYDROXYCHLOROQUINE SULFATE [Concomitant]
     Active Substance: HYDROXYCHLOROQUINE SULFATE
     Dosage: UNK
     Route: 064
  574. HYDROXYCHLOROQUINE SULFATE [Concomitant]
     Active Substance: HYDROXYCHLOROQUINE SULFATE
     Route: 064
     Dates: start: 2006
  575. HYDROXYCHLOROQUINE SULFATE [Concomitant]
     Active Substance: HYDROXYCHLOROQUINE SULFATE
     Route: 064
     Dates: start: 2006
  576. HYDROXYCHLOROQUINE SULFATE [Concomitant]
     Active Substance: HYDROXYCHLOROQUINE SULFATE
     Route: 064
  577. HYDROXYCHLOROQUINE SULFATE [Concomitant]
     Active Substance: HYDROXYCHLOROQUINE SULFATE
     Dosage: 400 MILLIGRAM, QD
     Route: 064
  578. HYDROXYCHLOROQUINE SULFATE [Concomitant]
     Active Substance: HYDROXYCHLOROQUINE SULFATE
     Dosage: UNK
     Route: 064
  579. HYDROXYCHLOROQUINE SULFATE [Concomitant]
     Active Substance: HYDROXYCHLOROQUINE SULFATE
     Route: 064
  580. HYDROXYCHLOROQUINE SULFATE [Concomitant]
     Active Substance: HYDROXYCHLOROQUINE SULFATE
     Dosage: 4000 MILLIGRAM, QD
     Route: 064
  581. HYDROXYCHLOROQUINE SULFATE [Concomitant]
     Active Substance: HYDROXYCHLOROQUINE SULFATE
     Dosage: UNK
     Route: 064
  582. HYDROXYCHLOROQUINE SULFATE [Concomitant]
     Active Substance: HYDROXYCHLOROQUINE SULFATE
     Route: 064
  583. HYDROXYCHLOROQUINE SULFATE [Concomitant]
     Active Substance: HYDROXYCHLOROQUINE SULFATE
     Route: 064
  584. HYDROXYCHLOROQUINE SULFATE [Concomitant]
     Active Substance: HYDROXYCHLOROQUINE SULFATE
     Route: 064
  585. HYDROXYCHLOROQUINE SULFATE [Concomitant]
     Active Substance: HYDROXYCHLOROQUINE SULFATE
     Route: 064
  586. HYDROXYCHLOROQUINE SULFATE [Concomitant]
     Active Substance: HYDROXYCHLOROQUINE SULFATE
     Route: 064
  587. HYDROXYCHLOROQUINE SULFATE [Concomitant]
     Active Substance: HYDROXYCHLOROQUINE SULFATE
     Route: 064
  588. HYDROXYCHLOROQUINE SULFATE [Concomitant]
     Active Substance: HYDROXYCHLOROQUINE SULFATE
     Route: 064
  589. HYDROXYCHLOROQUINE SULFATE [Concomitant]
     Active Substance: HYDROXYCHLOROQUINE SULFATE
     Route: 064
  590. HYDROXYCHLOROQUINE SULFATE [Concomitant]
     Active Substance: HYDROXYCHLOROQUINE SULFATE
     Route: 064
  591. HYDROXYCHLOROQUINE SULFATE [Concomitant]
     Active Substance: HYDROXYCHLOROQUINE SULFATE
     Route: 064
  592. HYDROXYCHLOROQUINE SULFATE [Concomitant]
     Active Substance: HYDROXYCHLOROQUINE SULFATE
     Route: 064
  593. HYDROXYCHLOROQUINE SULFATE [Concomitant]
     Active Substance: HYDROXYCHLOROQUINE SULFATE
     Route: 064
  594. HYDROXYCHLOROQUINE DIPHOSPHATE [Concomitant]
     Active Substance: HYDROXYCHLOROQUINE DIPHOSPHATE
     Indication: Rheumatoid arthritis
     Route: 064
  595. HYDROXYCHLOROQUINE DIPHOSPHATE [Concomitant]
     Active Substance: HYDROXYCHLOROQUINE DIPHOSPHATE
     Indication: Product used for unknown indication
     Route: 064
  596. PLAQUENIL [Concomitant]
     Active Substance: HYDROXYCHLOROQUINE SULFATE
     Indication: Product used for unknown indication
     Route: 064
  597. PLAQUENIL [Concomitant]
     Active Substance: HYDROXYCHLOROQUINE SULFATE
     Dosage: 400 MILLIGRAM, QD
     Route: 064
  598. PLAQUENIL [Concomitant]
     Active Substance: HYDROXYCHLOROQUINE SULFATE
     Dosage: 400 MILLIGRAM
     Route: 064
  599. PLAQUENIL [Concomitant]
     Active Substance: HYDROXYCHLOROQUINE SULFATE
     Dosage: 40 MILLIGRAM, QD
     Route: 064
  600. PLAQUENIL [Concomitant]
     Active Substance: HYDROXYCHLOROQUINE SULFATE
     Dosage: 40 MILLIGRAM, QD
     Route: 064
  601. PLAQUENIL [Concomitant]
     Active Substance: HYDROXYCHLOROQUINE SULFATE
     Route: 064
  602. PLAQUENIL [Concomitant]
     Active Substance: HYDROXYCHLOROQUINE SULFATE
     Route: 064
  603. REMICADE [Concomitant]
     Active Substance: INFLIXIMAB
     Indication: Product used for unknown indication
     Route: 064
  604. REMICADE [Concomitant]
     Active Substance: INFLIXIMAB
     Route: 064
  605. REMICADE [Concomitant]
     Active Substance: INFLIXIMAB
     Route: 064
  606. REMICADE [Concomitant]
     Active Substance: INFLIXIMAB
     Route: 064
  607. REMICADE [Concomitant]
     Active Substance: INFLIXIMAB
     Route: 064
  608. KEVZARA [Concomitant]
     Active Substance: SARILUMAB
     Indication: Product used for unknown indication
     Route: 064
  609. KEVZARA [Concomitant]
     Active Substance: SARILUMAB
     Dosage: UNK
     Route: 064
  610. KEVZARA [Concomitant]
     Active Substance: SARILUMAB
     Route: 064
  611. KEVZARA [Concomitant]
     Active Substance: SARILUMAB
     Dosage: UNK
     Route: 064
  612. KEVZARA [Concomitant]
     Active Substance: SARILUMAB
     Route: 064
  613. ARAVA [Concomitant]
     Active Substance: LEFLUNOMIDE
     Indication: Product used for unknown indication
     Dosage: UNK
     Route: 064
  614. ARAVA [Concomitant]
     Active Substance: LEFLUNOMIDE
     Route: 064
  615. ARAVA [Concomitant]
     Active Substance: LEFLUNOMIDE
     Route: 064
  616. ARAVA [Concomitant]
     Active Substance: LEFLUNOMIDE
     Route: 064
  617. ARAVA [Concomitant]
     Active Substance: LEFLUNOMIDE
     Route: 064
  618. ARAVA [Concomitant]
     Active Substance: LEFLUNOMIDE
     Route: 064
  619. METHOTREXATE [Concomitant]
     Active Substance: METHOTREXATE
     Indication: Product used for unknown indication
     Route: 064
  620. METHOTREXATE [Concomitant]
     Active Substance: METHOTREXATE
     Dosage: UNK UNK, QD
     Route: 064
  621. METHOTREXATE [Concomitant]
     Active Substance: METHOTREXATE
     Dosage: UNK
     Route: 064
  622. METHOTREXATE [Concomitant]
     Active Substance: METHOTREXATE
     Dosage: 25 MILLIGRAM
     Route: 064
  623. METHOTREXATE [Concomitant]
     Active Substance: METHOTREXATE
     Route: 064
  624. METHOTREXATE [Concomitant]
     Active Substance: METHOTREXATE
     Route: 064
  625. METHOTREXATE [Concomitant]
     Active Substance: METHOTREXATE
     Route: 064
  626. METHOTREXATE [Concomitant]
     Active Substance: METHOTREXATE
     Route: 064
  627. METHOTREXATE [Concomitant]
     Active Substance: METHOTREXATE
     Route: 064
  628. METHOTREXATE [Concomitant]
     Active Substance: METHOTREXATE
     Route: 064
  629. METHOTREXATE [Concomitant]
     Active Substance: METHOTREXATE
     Route: 064
  630. METHOTREXATE [Concomitant]
     Active Substance: METHOTREXATE
     Route: 064
  631. METHOTREXATE [Concomitant]
     Active Substance: METHOTREXATE
     Route: 064
  632. METHOTREXATE [Concomitant]
     Active Substance: METHOTREXATE
     Route: 064
  633. METHOTREXATE [Concomitant]
     Active Substance: METHOTREXATE
     Route: 064
  634. METHOTREXATE SODIUM [Concomitant]
     Active Substance: METHOTREXATE SODIUM
     Indication: Product used for unknown indication
     Route: 064
     Dates: start: 2006, end: 2016
  635. METHOTREXATE SODIUM [Concomitant]
     Active Substance: METHOTREXATE SODIUM
     Route: 064
  636. METHOTREXATE SODIUM [Concomitant]
     Active Substance: METHOTREXATE SODIUM
     Dosage: 25 MILLIGRAM
     Route: 064
  637. METHOTREXATE SODIUM [Concomitant]
     Active Substance: METHOTREXATE SODIUM
     Dosage: 25 MILLIGRAM
     Route: 064
  638. METHOTREXATE SODIUM [Concomitant]
     Active Substance: METHOTREXATE SODIUM
     Dosage: UNK
     Route: 064
  639. METHOTREXATE SODIUM [Concomitant]
     Active Substance: METHOTREXATE SODIUM
     Dosage: UNK
     Route: 064
  640. METHOTREXATE SODIUM [Concomitant]
     Active Substance: METHOTREXATE SODIUM
     Route: 064
  641. METHOTREXATE SODIUM [Concomitant]
     Active Substance: METHOTREXATE SODIUM
     Route: 064
  642. METHOTREXATE SODIUM [Concomitant]
     Active Substance: METHOTREXATE SODIUM
     Route: 064
  643. METHOTREXATE SODIUM [Concomitant]
     Active Substance: METHOTREXATE SODIUM
     Route: 064
  644. METHOTREXATE SODIUM [Concomitant]
     Active Substance: METHOTREXATE SODIUM
     Route: 064
  645. METHOTREXATE SODIUM [Concomitant]
     Active Substance: METHOTREXATE SODIUM
     Route: 064
  646. METHOTREXATE SODIUM [Concomitant]
     Active Substance: METHOTREXATE SODIUM
     Route: 064
  647. METHOTREXATE SODIUM [Concomitant]
     Active Substance: METHOTREXATE SODIUM
     Route: 064
  648. METHOTREXATE SODIUM [Concomitant]
     Active Substance: METHOTREXATE SODIUM
     Route: 064
  649. METHOTREXATE SODIUM [Concomitant]
     Active Substance: METHOTREXATE SODIUM
     Route: 064
  650. METHOTREXATE SODIUM [Concomitant]
     Active Substance: METHOTREXATE SODIUM
     Route: 064
  651. SULFATHALIDINE [Concomitant]
     Active Substance: PHTHALYLSULFATHIAZOLE
     Indication: Product used for unknown indication
     Dosage: UNK
     Route: 064
  652. PREDNISONE [Concomitant]
     Active Substance: PREDNISONE
     Indication: Product used for unknown indication
     Dosage: UNK
     Route: 064
  653. PREDNISONE [Concomitant]
     Active Substance: PREDNISONE
     Dosage: 1 MILLIGRAM
     Route: 064
  654. PREDNISONE [Concomitant]
     Active Substance: PREDNISONE
     Dosage: 40 MILLIGRAM
     Route: 064
  655. PREDNISONE [Concomitant]
     Active Substance: PREDNISONE
     Route: 064
  656. PREDNISONE [Concomitant]
     Active Substance: PREDNISONE
     Route: 064
  657. PREDNISONE [Concomitant]
     Active Substance: PREDNISONE
     Route: 064
  658. PREDNISONE [Concomitant]
     Active Substance: PREDNISONE
     Indication: Product used for unknown indication
     Route: 064
  659. PREDNISONE [Concomitant]
     Active Substance: PREDNISONE
     Route: 064
  660. PSEUDOEPHEDRINE HYDROCHLORIDE [Concomitant]
     Active Substance: PSEUDOEPHEDRINE HYDROCHLORIDE
     Indication: Product used for unknown indication
     Dosage: UNK
     Route: 064
  661. PSEUDOEPHEDRINE HYDROCHLORIDE [Concomitant]
     Active Substance: PSEUDOEPHEDRINE HYDROCHLORIDE
     Route: 064
  662. PSEUDOEPHEDRINE HYDROCHLORIDE [Concomitant]
     Active Substance: PSEUDOEPHEDRINE HYDROCHLORIDE
     Route: 064
  663. PSEUDOEPHEDRINE HYDROCHLORIDE [Concomitant]
     Active Substance: PSEUDOEPHEDRINE HYDROCHLORIDE
     Route: 064
  664. PSEUDOEPHEDRINE HYDROCHLORIDE [Concomitant]
     Active Substance: PSEUDOEPHEDRINE HYDROCHLORIDE
     Route: 064
  665. PSEUDOEPHEDRINE HYDROCHLORIDE [Concomitant]
     Active Substance: PSEUDOEPHEDRINE HYDROCHLORIDE
     Route: 064
  666. PSEUDOEPHEDRINE HYDROCHLORIDE [Concomitant]
     Active Substance: PSEUDOEPHEDRINE HYDROCHLORIDE
     Route: 064
  667. PSEUDOEPHEDRINE HYDROCHLORIDE [Concomitant]
     Active Substance: PSEUDOEPHEDRINE HYDROCHLORIDE
     Route: 064
  668. PSEUDOEPHEDRINE HYDROCHLORIDE [Concomitant]
     Active Substance: PSEUDOEPHEDRINE HYDROCHLORIDE
     Route: 064
  669. PSEUDOEPHEDRINE HYDROCHLORIDE [Concomitant]
     Active Substance: PSEUDOEPHEDRINE HYDROCHLORIDE
     Route: 064
  670. RITUXAN [Concomitant]
     Active Substance: RITUXIMAB
     Indication: Product used for unknown indication
     Route: 064
  671. RITUXAN [Concomitant]
     Active Substance: RITUXIMAB
     Dosage: SOLN INTRAVENOUS
     Route: 064
  672. RITUXIMAB [Concomitant]
     Active Substance: RITUXIMAB
     Indication: Product used for unknown indication
     Dosage: UNK
     Route: 064
  673. RITUXIMAB [Concomitant]
     Active Substance: RITUXIMAB
     Dosage: UNK
     Route: 064
  674. RITUXIMAB [Concomitant]
     Active Substance: RITUXIMAB
     Route: 064
  675. RITUXIMAB [Concomitant]
     Active Substance: RITUXIMAB
     Route: 064
  676. RITUXIMAB [Concomitant]
     Active Substance: RITUXIMAB
     Route: 064
  677. RITUXIMAB [Concomitant]
     Active Substance: RITUXIMAB
     Route: 064
  678. RITUXIMAB [Concomitant]
     Active Substance: RITUXIMAB
     Route: 064
  679. RITUXIMAB [Concomitant]
     Active Substance: RITUXIMAB
     Route: 064
  680. RITUXIMAB [Concomitant]
     Active Substance: RITUXIMAB
     Route: 064
  681. RITUXIMAB [Concomitant]
     Active Substance: RITUXIMAB
     Route: 064
  682. RITUXIMAB [Concomitant]
     Active Substance: RITUXIMAB
     Route: 064
  683. RITUXIMAB [Concomitant]
     Active Substance: RITUXIMAB
     Route: 064
  684. RITUXIMAB [Concomitant]
     Active Substance: RITUXIMAB
     Route: 064
  685. RITUXIMAB [Concomitant]
     Active Substance: RITUXIMAB
     Route: 064
  686. SARILUMAB [Concomitant]
     Active Substance: SARILUMAB
     Indication: Product used for unknown indication
     Route: 064
  687. STELARA [Concomitant]
     Active Substance: USTEKINUMAB
     Indication: Product used for unknown indication
     Dosage: UNK
     Route: 064
  688. STELARA [Concomitant]
     Active Substance: USTEKINUMAB
     Dosage: 45 MILLIGRAM
     Route: 064
  689. STELARA [Concomitant]
     Active Substance: USTEKINUMAB
     Route: 064
  690. STELARA [Concomitant]
     Active Substance: USTEKINUMAB
     Route: 064
  691. STELARA [Concomitant]
     Active Substance: USTEKINUMAB
     Dosage: SOLUTION SUBCUTANEOUS
     Route: 064
  692. STELARA [Concomitant]
     Active Substance: USTEKINUMAB
     Dosage: SOLUTION SUBCUTANEOUS
     Route: 064
  693. STELARA [Concomitant]
     Active Substance: USTEKINUMAB
     Route: 064
  694. STELARA [Concomitant]
     Active Substance: USTEKINUMAB
     Dosage: SOLUTION SUBCUTANEOUS
     Route: 064
  695. STELARA [Concomitant]
     Active Substance: USTEKINUMAB
     Route: 064
  696. STELARA [Concomitant]
     Active Substance: USTEKINUMAB
     Route: 064
  697. STELARA [Concomitant]
     Active Substance: USTEKINUMAB
     Dosage: SOLUTION SUBCUTANEOUS
     Route: 064
  698. STELARA [Concomitant]
     Active Substance: USTEKINUMAB
     Dosage: SOLUTION SUBCUTANEOUS
     Route: 064
  699. SULFASALAZINE [Concomitant]
     Active Substance: SULFASALAZINE
     Indication: Product used for unknown indication
     Route: 064
  700. SULFASALAZINE [Concomitant]
     Active Substance: SULFASALAZINE
     Route: 064
  701. SULFASALAZINE [Concomitant]
     Active Substance: SULFASALAZINE
     Route: 064
  702. SULFASALAZINE [Concomitant]
     Active Substance: SULFASALAZINE
     Route: 064
  703. SULFASALAZINE [Concomitant]
     Active Substance: SULFASALAZINE
     Dosage: 500 MILLIGRAM
     Route: 064
  704. SULFASALAZINE [Concomitant]
     Active Substance: SULFASALAZINE
     Dosage: 1000 MILLIGRAM, BID
     Route: 064
  705. SULFASALAZINE [Concomitant]
     Active Substance: SULFASALAZINE
     Dosage: UNK
     Route: 064
  706. SULFASALAZINE [Concomitant]
     Active Substance: SULFASALAZINE
     Dosage: 1 DOSAGE FORM
     Route: 064
  707. SULFASALAZINE [Concomitant]
     Active Substance: SULFASALAZINE
     Route: 064
     Dates: start: 2006, end: 2007
  708. SULFASALAZINE [Concomitant]
     Active Substance: SULFASALAZINE
     Route: 064
  709. SULFASALAZINE [Concomitant]
     Active Substance: SULFASALAZINE
     Route: 064
  710. SULFASALAZINE [Concomitant]
     Active Substance: SULFASALAZINE
     Route: 064
  711. SULFASALAZINE [Concomitant]
     Active Substance: SULFASALAZINE
     Route: 064
  712. SULFASALAZINE [Concomitant]
     Active Substance: SULFASALAZINE
     Route: 064
  713. SULFASALAZINE [Concomitant]
     Active Substance: SULFASALAZINE
     Route: 064
  714. SULFASALAZINE [Concomitant]
     Active Substance: SULFASALAZINE
     Route: 064
  715. SULFASALAZINE [Concomitant]
     Active Substance: SULFASALAZINE
     Route: 064
  716. SULFASALAZINE [Concomitant]
     Active Substance: SULFASALAZINE
     Route: 064
  717. SULFASALAZINE [Concomitant]
     Active Substance: SULFASALAZINE
     Route: 064
  718. SULFASALAZINE [Concomitant]
     Active Substance: SULFASALAZINE
     Route: 064
  719. SULFASALAZINE [Concomitant]
     Active Substance: SULFASALAZINE
     Route: 064
  720. SULFASALAZINE [Concomitant]
     Active Substance: SULFASALAZINE
     Route: 064
  721. SULFASALAZINE [Concomitant]
     Active Substance: SULFASALAZINE
     Route: 064
  722. SULFASALAZINE [Concomitant]
     Active Substance: SULFASALAZINE
     Route: 064
  723. SULFASALAZINE [Concomitant]
     Active Substance: SULFASALAZINE
     Route: 064
  724. SULFASALAZINE [Concomitant]
     Active Substance: SULFASALAZINE
     Route: 064
  725. SULFASALAZINE [Concomitant]
     Active Substance: SULFASALAZINE
     Route: 064
  726. SULFASALAZINE [Concomitant]
     Active Substance: SULFASALAZINE
     Route: 064
  727. SULFASALAZINE [Concomitant]
     Active Substance: SULFASALAZINE
     Route: 064
  728. SULFASALAZINE [Concomitant]
     Active Substance: SULFASALAZINE
     Route: 064
  729. SULFASALAZINE [Concomitant]
     Active Substance: SULFASALAZINE
     Route: 064
  730. SULFASALAZINE [Concomitant]
     Active Substance: SULFASALAZINE
     Route: 064
  731. TOCILIZUMAB [Concomitant]
     Active Substance: TOCILIZUMAB
     Indication: Product used for unknown indication
     Dosage: UNK
     Route: 064
  732. TOCILIZUMAB [Concomitant]
     Active Substance: TOCILIZUMAB
     Dosage: UNK
     Route: 064
  733. TOCILIZUMAB [Concomitant]
     Active Substance: TOCILIZUMAB
     Route: 064
  734. TOCILIZUMAB [Concomitant]
     Active Substance: TOCILIZUMAB
     Route: 064
  735. TOCILIZUMAB [Concomitant]
     Active Substance: TOCILIZUMAB
     Dosage: UNK
     Route: 064
  736. TOFACITINIB CITRATE [Concomitant]
     Active Substance: TOFACITINIB CITRATE
     Indication: Product used for unknown indication
     Dosage: UNK
     Route: 064
  737. TOFACITINIB CITRATE [Concomitant]
     Active Substance: TOFACITINIB CITRATE
     Route: 064
  738. TOFACITINIB CITRATE [Concomitant]
     Active Substance: TOFACITINIB CITRATE
     Route: 064
  739. TOFACITINIB CITRATE [Concomitant]
     Active Substance: TOFACITINIB CITRATE
     Route: 064
  740. TOFACITINIB CITRATE [Concomitant]
     Active Substance: TOFACITINIB CITRATE
     Route: 064
  741. ALENDRONIC ACID [Concomitant]
     Active Substance: ALENDRONIC ACID
     Indication: Product used for unknown indication
     Route: 064
  742. ALENDRONIC ACID [Concomitant]
     Active Substance: ALENDRONIC ACID
     Route: 064
  743. ALENDRONIC ACID [Concomitant]
     Active Substance: ALENDRONIC ACID
     Route: 064
  744. ALENDRONIC ACID [Concomitant]
     Active Substance: ALENDRONIC ACID
     Route: 064
  745. ALENDRONIC ACID [Concomitant]
     Active Substance: ALENDRONIC ACID
     Route: 064
  746. ALENDRONIC ACID [Concomitant]
     Active Substance: ALENDRONIC ACID
     Route: 064
  747. DICLOFENAC POTASSIUM [Concomitant]
     Active Substance: DICLOFENAC POTASSIUM
     Indication: Product used for unknown indication
     Route: 064
  748. DICLOFENAC POTASSIUM [Concomitant]
     Active Substance: DICLOFENAC POTASSIUM
     Route: 064
  749. DICLOFENAC POTASSIUM [Concomitant]
     Active Substance: DICLOFENAC POTASSIUM
     Route: 064
  750. DICLOFENAC POTASSIUM [Concomitant]
     Active Substance: DICLOFENAC POTASSIUM
     Route: 064
  751. DICLOFENAC POTASSIUM [Concomitant]
     Active Substance: DICLOFENAC POTASSIUM
     Route: 064
  752. TOFACITINIB [Concomitant]
     Active Substance: TOFACITINIB
     Indication: Product used for unknown indication
     Route: 064
  753. DOXYCYCLINE [Concomitant]
     Active Substance: DOXYCYCLINE\DOXYCYCLINE HYCLATE
     Indication: Product used for unknown indication
     Dosage: 40 MILLIGRAM
     Route: 064
  754. FLUMETHASONE PIVALATE [Concomitant]
     Active Substance: FLUMETHASONE PIVALATE
     Indication: Product used for unknown indication
     Route: 064
  755. FLUMETHASONE PIVALATE [Concomitant]
     Active Substance: FLUMETHASONE PIVALATE
     Route: 064
  756. FLUMETHASONE PIVALATE [Concomitant]
     Active Substance: FLUMETHASONE PIVALATE
     Route: 064
  757. LYRICA [Concomitant]
     Active Substance: PREGABALIN
     Indication: Product used for unknown indication
     Route: 064
  758. MYCOPHENOLATE MOFETIL [Concomitant]
     Active Substance: MYCOPHENOLATE MOFETIL
     Indication: Product used for unknown indication
     Route: 064
  759. OTEZLA [Concomitant]
     Active Substance: APREMILAST
     Indication: Product used for unknown indication
     Route: 064
  760. OTEZLA [Concomitant]
     Active Substance: APREMILAST
     Route: 064
  761. OTEZLA [Concomitant]
     Active Substance: APREMILAST
     Route: 064
  762. OTEZLA [Concomitant]
     Active Substance: APREMILAST
     Route: 064
  763. CETIRIZINE HYDROCHLORIDE\PSEUDOEPHEDRINE HYDROCHLORIDE [Concomitant]
     Active Substance: CETIRIZINE HYDROCHLORIDE\PSEUDOEPHEDRINE HYDROCHLORIDE
     Indication: Product used for unknown indication
     Route: 064
  764. CETIRIZINE HYDROCHLORIDE\PSEUDOEPHEDRINE HYDROCHLORIDE [Concomitant]
     Active Substance: CETIRIZINE HYDROCHLORIDE\PSEUDOEPHEDRINE HYDROCHLORIDE
     Dosage: 25 MILLIGRAM
     Route: 064
  765. CETIRIZINE HYDROCHLORIDE\PSEUDOEPHEDRINE HYDROCHLORIDE [Concomitant]
     Active Substance: CETIRIZINE HYDROCHLORIDE\PSEUDOEPHEDRINE HYDROCHLORIDE
     Dosage: UNK
     Route: 064
  766. CETIRIZINE HYDROCHLORIDE\PSEUDOEPHEDRINE HYDROCHLORIDE [Concomitant]
     Active Substance: CETIRIZINE HYDROCHLORIDE\PSEUDOEPHEDRINE HYDROCHLORIDE
     Route: 064
  767. CETIRIZINE HYDROCHLORIDE\PSEUDOEPHEDRINE HYDROCHLORIDE [Concomitant]
     Active Substance: CETIRIZINE HYDROCHLORIDE\PSEUDOEPHEDRINE HYDROCHLORIDE
     Route: 064
  768. CETIRIZINE HYDROCHLORIDE\PSEUDOEPHEDRINE HYDROCHLORIDE [Concomitant]
     Active Substance: CETIRIZINE HYDROCHLORIDE\PSEUDOEPHEDRINE HYDROCHLORIDE
     Route: 064
  769. CETIRIZINE HYDROCHLORIDE\PSEUDOEPHEDRINE HYDROCHLORIDE [Concomitant]
     Active Substance: CETIRIZINE HYDROCHLORIDE\PSEUDOEPHEDRINE HYDROCHLORIDE
     Route: 064
  770. CETIRIZINE HYDROCHLORIDE\PSEUDOEPHEDRINE HYDROCHLORIDE [Concomitant]
     Active Substance: CETIRIZINE HYDROCHLORIDE\PSEUDOEPHEDRINE HYDROCHLORIDE
     Dosage: TABLET (EXTENDED- RELEASE)
     Route: 064
  771. CETIRIZINE HYDROCHLORIDE\PSEUDOEPHEDRINE HYDROCHLORIDE [Concomitant]
     Active Substance: CETIRIZINE HYDROCHLORIDE\PSEUDOEPHEDRINE HYDROCHLORIDE
     Dosage: TABLET (EXTENDED- RELEASE)
     Route: 064
  772. CETIRIZINE HYDROCHLORIDE\PSEUDOEPHEDRINE HYDROCHLORIDE [Concomitant]
     Active Substance: CETIRIZINE HYDROCHLORIDE\PSEUDOEPHEDRINE HYDROCHLORIDE
     Dosage: TABLET (EXTENDED- RELEASE)
     Route: 064
  773. CETIRIZINE HYDROCHLORIDE\PSEUDOEPHEDRINE HYDROCHLORIDE [Concomitant]
     Active Substance: CETIRIZINE HYDROCHLORIDE\PSEUDOEPHEDRINE HYDROCHLORIDE
     Dosage: TABLET (EXTENDED- RELEASE)
     Route: 064
  774. ACETAMINOPHEN\PROPOXYPHENE HYDROCHLORIDE [Concomitant]
     Active Substance: ACETAMINOPHEN\PROPOXYPHENE HYDROCHLORIDE
     Indication: Product used for unknown indication
     Route: 064
  775. PREDNISONE [Concomitant]
     Active Substance: PREDNISONE
     Indication: Product used for unknown indication
     Route: 064
  776. PREDNISONE [Concomitant]
     Active Substance: PREDNISONE
     Route: 064
  777. PREDNISONE [Concomitant]
     Active Substance: PREDNISONE
     Route: 064
  778. PREDNISONE [Concomitant]
     Active Substance: PREDNISONE
     Route: 064
  779. PREDNISONE [Concomitant]
     Active Substance: PREDNISONE
     Route: 064
  780. PREDNISONE [Concomitant]
     Active Substance: PREDNISONE
     Route: 064
  781. APREMILAST [Concomitant]
     Active Substance: APREMILAST
     Indication: Product used for unknown indication
     Route: 064
  782. APREMILAST [Concomitant]
     Active Substance: APREMILAST
     Route: 064
  783. APREMILAST [Concomitant]
     Active Substance: APREMILAST
     Route: 064
  784. CIMZIA [Concomitant]
     Active Substance: CERTOLIZUMAB PEGOL
     Indication: Product used for unknown indication
     Route: 064
  785. CIMZIA [Concomitant]
     Active Substance: CERTOLIZUMAB PEGOL
     Route: 064
  786. CIMZIA [Concomitant]
     Active Substance: CERTOLIZUMAB PEGOL
     Route: 064
  787. CIMZIA [Concomitant]
     Active Substance: CERTOLIZUMAB PEGOL
     Route: 064
  788. CIMZIA [Concomitant]
     Active Substance: CERTOLIZUMAB PEGOL
     Route: 064
  789. CIMZIA [Concomitant]
     Active Substance: CERTOLIZUMAB PEGOL
     Route: 064
  790. CIMZIA [Concomitant]
     Active Substance: CERTOLIZUMAB PEGOL
     Route: 064
  791. CIMZIA [Concomitant]
     Active Substance: CERTOLIZUMAB PEGOL
     Route: 064
  792. CIMZIA [Concomitant]
     Active Substance: CERTOLIZUMAB PEGOL
     Route: 064
  793. CIMZIA [Concomitant]
     Active Substance: CERTOLIZUMAB PEGOL
     Route: 064
  794. CIMZIA [Concomitant]
     Active Substance: CERTOLIZUMAB PEGOL
     Route: 064
  795. CORTISONE (HYDROCORTISONE) [Concomitant]
     Active Substance: HYDROCORTISONE
     Indication: Product used for unknown indication
     Route: 064
  796. CORTISONE (HYDROCORTISONE) [Concomitant]
     Active Substance: HYDROCORTISONE
     Route: 064
  797. CORTISONE (HYDROCORTISONE) [Concomitant]
     Active Substance: HYDROCORTISONE
     Route: 064
  798. CORTISONE (HYDROCORTISONE) [Concomitant]
     Active Substance: HYDROCORTISONE
     Route: 064
  799. CORTISONE (HYDROCORTISONE) [Concomitant]
     Active Substance: HYDROCORTISONE
     Route: 064
  800. CORTISONE (HYDROCORTISONE) [Concomitant]
     Active Substance: HYDROCORTISONE
     Route: 064
  801. CORTISONE (HYDROCORTISONE) [Concomitant]
     Active Substance: HYDROCORTISONE
     Route: 064
  802. CORTISONE (HYDROCORTISONE) [Concomitant]
     Active Substance: HYDROCORTISONE
     Route: 064
  803. CORTISONE (HYDROCORTISONE) [Concomitant]
     Active Substance: HYDROCORTISONE
     Route: 064
  804. CORTISONE (HYDROCORTISONE) [Concomitant]
     Active Substance: HYDROCORTISONE
     Route: 064
  805. CORTISONE (HYDROCORTISONE) [Concomitant]
     Active Substance: HYDROCORTISONE
     Route: 064
  806. CORTISONE (HYDROCORTISONE) [Concomitant]
     Active Substance: HYDROCORTISONE
     Route: 064
  807. CORTISONE (HYDROCORTISONE) [Concomitant]
     Active Substance: HYDROCORTISONE
     Route: 064
  808. CORTISONE (HYDROCORTISONE) [Concomitant]
     Active Substance: HYDROCORTISONE
     Route: 064
  809. CORTISONE (HYDROCORTISONE) [Concomitant]
     Active Substance: HYDROCORTISONE
     Route: 064
  810. HYDROCORTISONE [Concomitant]
     Active Substance: HYDROCORTISONE\HYDROCORTISONE ACETATE
     Indication: Product used for unknown indication
     Route: 064
  811. HYDROCORTISONE [Concomitant]
     Active Substance: HYDROCORTISONE\HYDROCORTISONE ACETATE
     Route: 064
  812. HYDROCORTISONE [Concomitant]
     Active Substance: HYDROCORTISONE\HYDROCORTISONE ACETATE
     Route: 064
  813. HYDROCORTISONE [Concomitant]
     Active Substance: HYDROCORTISONE\HYDROCORTISONE ACETATE
     Route: 064
  814. HYDROCORTISONE [Concomitant]
     Active Substance: HYDROCORTISONE\HYDROCORTISONE ACETATE
     Route: 064
  815. INFLIXIMAB [Concomitant]
     Active Substance: INFLIXIMAB
     Indication: Product used for unknown indication
     Route: 064
  816. INFLIXIMAB [Concomitant]
     Active Substance: INFLIXIMAB
     Route: 064
  817. INFLIXIMAB [Concomitant]
     Active Substance: INFLIXIMAB
     Route: 064
  818. INFLIXIMAB [Concomitant]
     Active Substance: INFLIXIMAB
     Route: 064
  819. INFLIXIMAB [Concomitant]
     Active Substance: INFLIXIMAB
     Route: 064
  820. INFLIXIMAB [Concomitant]
     Active Substance: INFLIXIMAB
     Route: 064
  821. SULFASALAZINE [Concomitant]
     Active Substance: SULFASALAZINE
     Indication: Product used for unknown indication
     Route: 064
  822. SULFASALAZINE [Concomitant]
     Active Substance: SULFASALAZINE
     Route: 064
  823. SULFASALAZINE [Concomitant]
     Active Substance: SULFASALAZINE
     Route: 064
  824. SULFASALAZINE [Concomitant]
     Active Substance: SULFASALAZINE
     Route: 064
  825. SULFASALAZINE [Concomitant]
     Active Substance: SULFASALAZINE
     Route: 064
  826. SULFASALAZINE [Concomitant]
     Active Substance: SULFASALAZINE
     Route: 064
  827. SULFASALAZINE [Concomitant]
     Active Substance: SULFASALAZINE
     Route: 064
  828. TOCILIZUMAB [Concomitant]
     Active Substance: TOCILIZUMAB
     Indication: Product used for unknown indication
     Route: 064
  829. TOCILIZUMAB [Concomitant]
     Active Substance: TOCILIZUMAB
     Route: 064
  830. TOCILIZUMAB [Concomitant]
     Active Substance: TOCILIZUMAB
     Route: 064
  831. TOCILIZUMAB [Concomitant]
     Active Substance: TOCILIZUMAB
     Route: 064
  832. TOFACITINIB [Concomitant]
     Active Substance: TOFACITINIB
     Indication: Product used for unknown indication
     Route: 064
  833. TOFACITINIB [Concomitant]
     Active Substance: TOFACITINIB
     Route: 064
  834. TOFACITINIB [Concomitant]
     Active Substance: TOFACITINIB
     Route: 064
  835. TOFACITINIB [Concomitant]
     Active Substance: TOFACITINIB
     Route: 064
  836. TOFACITINIB [Concomitant]
     Active Substance: TOFACITINIB
     Route: 064
  837. TOFACITINIB [Concomitant]
     Active Substance: TOFACITINIB
     Route: 064
  838. USTEKINUMAB [Concomitant]
     Active Substance: USTEKINUMAB
     Indication: Product used for unknown indication
     Route: 064
  839. USTEKINUMAB [Concomitant]
     Active Substance: USTEKINUMAB
     Route: 064
  840. USTEKINUMAB [Concomitant]
     Active Substance: USTEKINUMAB
     Route: 064
  841. USTEKINUMAB [Concomitant]
     Active Substance: USTEKINUMAB
     Route: 064
  842. USTEKINUMAB [Concomitant]
     Active Substance: USTEKINUMAB
     Route: 064
  843. USTEKINUMAB [Concomitant]
     Active Substance: USTEKINUMAB
     Route: 064
  844. ZYRTEC-D [Concomitant]
     Active Substance: CETIRIZINE HYDROCHLORIDE\PSEUDOEPHEDRINE HYDROCHLORIDE
     Indication: Product used for unknown indication
     Route: 064
  845. SYNTHROID [Concomitant]
     Active Substance: LEVOTHYROXINE SODIUM
     Indication: Product used for unknown indication
     Route: 064
  846. ACETAMINOPHEN [Concomitant]
     Active Substance: ACETAMINOPHEN
     Indication: Product used for unknown indication
     Route: 064
  847. XELJANZ [Concomitant]
     Active Substance: TOFACITINIB CITRATE
     Indication: Product used for unknown indication
     Route: 064
  848. XELJANZ [Concomitant]
     Active Substance: TOFACITINIB CITRATE
     Route: 064
  849. DICLOFENAC [Concomitant]
     Active Substance: DICLOFENAC
     Indication: Product used for unknown indication
     Route: 064
  850. IBUPROFEN [Concomitant]
     Active Substance: IBUPROFEN
     Indication: Product used for unknown indication
     Route: 064
  851. LEFLUNOMIDE [Concomitant]
     Active Substance: LEFLUNOMIDE
     Indication: Product used for unknown indication
     Dosage: UNK
     Route: 064
  852. LEFLUNOMIDE [Concomitant]
     Active Substance: LEFLUNOMIDE
     Dosage: UNK
     Route: 064
  853. LEFLUNOMIDE [Concomitant]
     Active Substance: LEFLUNOMIDE
     Route: 064
  854. LEFLUNOMIDE [Concomitant]
     Active Substance: LEFLUNOMIDE
     Route: 064
  855. LEFLUNOMIDE [Concomitant]
     Active Substance: LEFLUNOMIDE
     Route: 064
  856. LEFLUNOMIDE [Concomitant]
     Active Substance: LEFLUNOMIDE
     Route: 064
  857. LEFLUNOMIDE [Concomitant]
     Active Substance: LEFLUNOMIDE
     Route: 064
  858. LEFLUNOMIDE [Concomitant]
     Active Substance: LEFLUNOMIDE
     Route: 064
  859. LEFLUNOMIDE [Concomitant]
     Active Substance: LEFLUNOMIDE
     Route: 064
  860. LEFLUNOMIDE [Concomitant]
     Active Substance: LEFLUNOMIDE
     Route: 064
  861. LISINOPRIL [Concomitant]
     Active Substance: LISINOPRIL
     Indication: Product used for unknown indication
     Route: 064
  862. PREDNISOLONE [Concomitant]
     Active Substance: PREDNISOLONE
     Indication: Product used for unknown indication
     Route: 064
  863. SULFASALAZINE [Concomitant]
     Active Substance: SULFASALAZINE
     Indication: Product used for unknown indication
     Route: 064
  864. TOFACITINIB CITRATE [Concomitant]
     Active Substance: TOFACITINIB CITRATE
     Indication: Product used for unknown indication
     Route: 064
  865. XELJANZ [Concomitant]
     Active Substance: TOFACITINIB CITRATE
     Indication: Product used for unknown indication
     Route: 064
  866. VITAMIN D3 [Concomitant]
     Active Substance: CHOLECALCIFEROL
     Indication: Product used for unknown indication
     Route: 064
  867. VITAMIN D3 [Concomitant]
     Active Substance: CHOLECALCIFEROL
     Route: 064
  868. ACETAMINOPHEN [Concomitant]
     Active Substance: ACETAMINOPHEN
     Indication: Product used for unknown indication
     Route: 064
  869. ACETAMINOPHEN [Concomitant]
     Active Substance: ACETAMINOPHEN
     Route: 064
  870. ACETAMINOPHEN [Concomitant]
     Active Substance: ACETAMINOPHEN
     Route: 064
  871. ACETAMINOPHEN [Concomitant]
     Active Substance: ACETAMINOPHEN
     Route: 064
  872. CALCIUM [Concomitant]
     Active Substance: CALCIUM
     Indication: Product used for unknown indication
     Dosage: UNK
     Route: 064
  873. CALCIUM [Concomitant]
     Active Substance: CALCIUM
     Route: 064
  874. CALCIUM GLUCONATE [Concomitant]
     Active Substance: CALCIUM GLUCONATE
     Indication: Product used for unknown indication
     Route: 064
  875. CALCIUM GLUCONATE [Concomitant]
     Active Substance: CALCIUM GLUCONATE
     Route: 064
  876. PANTOPRAZOLE [Concomitant]
     Active Substance: PANTOPRAZOLE
     Indication: Product used for unknown indication
     Dosage: UNK
     Route: 064
  877. QUETIAPINE [Concomitant]
     Active Substance: QUETIAPINE
     Indication: Product used for unknown indication
     Dosage: UNK
     Route: 064
  878. RAMIPRIL [Concomitant]
     Active Substance: RAMIPRIL
     Indication: Product used for unknown indication
     Route: 064
  879. RAMIPRIL [Concomitant]
     Active Substance: RAMIPRIL
     Route: 064
  880. ACETAMINOPHEN AND CODEINE [Concomitant]
     Active Substance: ACETAMINOPHEN\CODEINE PHOSPHATE
     Indication: Product used for unknown indication
     Route: 064
  881. ACETAMINOPHEN AND CODEINE [Concomitant]
     Active Substance: ACETAMINOPHEN\CODEINE PHOSPHATE
     Route: 064
  882. CAFFEINE [Concomitant]
     Active Substance: CAFFEINE
     Indication: Product used for unknown indication
     Route: 064
  883. ACETAMINOPHEN\PROPOXYPHENE HYDROCHLORIDE [Concomitant]
     Active Substance: ACETAMINOPHEN\PROPOXYPHENE HYDROCHLORIDE
     Indication: Product used for unknown indication
     Route: 064
  884. ACETAMINOPHEN\PROPOXYPHENE HYDROCHLORIDE [Concomitant]
     Active Substance: ACETAMINOPHEN\PROPOXYPHENE HYDROCHLORIDE
     Indication: Product used for unknown indication
     Route: 064
  885. ACETAMINOPHEN\CAFFEINE [Concomitant]
     Active Substance: ACETAMINOPHEN\CAFFEINE
     Indication: Product used for unknown indication
     Route: 064
  886. ACETAMINOPHEN\CAFFEINE\CODEINE PHOSPHATE [Concomitant]
     Active Substance: ACETAMINOPHEN\CAFFEINE\CODEINE PHOSPHATE
     Indication: Product used for unknown indication
     Route: 064
  887. CAFFEINE CITRATE [Concomitant]
     Active Substance: CAFFEINE CITRATE
     Indication: Product used for unknown indication
     Route: 064
  888. CHOLECALCIFEROL [Concomitant]
     Active Substance: CHOLECALCIFEROL
     Indication: Product used for unknown indication
     Route: 064
  889. CHOLECALCIFEROL [Concomitant]
     Active Substance: CHOLECALCIFEROL
     Route: 064
  890. CHOLECALCIFEROL [Concomitant]
     Active Substance: CHOLECALCIFEROL
     Route: 064
  891. ACETAMINOPHEN\CODEINE PHOSPHATE [Concomitant]
     Active Substance: ACETAMINOPHEN\CODEINE PHOSPHATE
     Indication: Product used for unknown indication
     Route: 064
  892. MAGNESIUM [Concomitant]
     Active Substance: MAGNESIUM
     Indication: Product used for unknown indication
     Route: 064
  893. MELOXICAM [Concomitant]
     Active Substance: MELOXICAM
     Indication: Product used for unknown indication
     Route: 064
  894. PIROXICAM [Concomitant]
     Active Substance: PIROXICAM
     Indication: Product used for unknown indication
     Route: 064
  895. PREDNISOLONE ACETATE [Concomitant]
     Active Substance: PREDNISOLONE ACETATE
     Indication: Product used for unknown indication
     Route: 064
  896. PRINIVIL [Concomitant]
     Active Substance: LISINOPRIL
     Indication: Product used for unknown indication
     Route: 064
  897. PRINIVIL [Concomitant]
     Active Substance: LISINOPRIL
     Route: 064
  898. RISEDRONATE SODIUM [Concomitant]
     Active Substance: RISEDRONATE SODIUM
     Indication: Product used for unknown indication
     Route: 064
  899. RISEDRONATE SODIUM [Concomitant]
     Active Substance: RISEDRONATE SODIUM
     Route: 064
  900. SALAZOPYRINE [Concomitant]
     Active Substance: SULFASALAZINE
     Indication: Product used for unknown indication
     Route: 064
  901. CELECOXIB [Concomitant]
     Active Substance: CELECOXIB
     Indication: Product used for unknown indication
     Route: 064
  902. CELECOXIB [Concomitant]
     Active Substance: CELECOXIB
     Route: 064
  903. CELECOXIB [Concomitant]
     Active Substance: CELECOXIB
     Route: 064
  904. CELECOXIB [Concomitant]
     Active Substance: CELECOXIB
     Route: 064
  905. CELECOXIB [Concomitant]
     Active Substance: CELECOXIB
     Route: 064
  906. DICLOFENAC DIETHYLAMINE [Concomitant]
     Active Substance: DICLOFENAC DIETHYLAMINE
     Indication: Product used for unknown indication
     Route: 064
  907. LEVOTHYROXINE SODIUM [Concomitant]
     Active Substance: LEVOTHYROXINE SODIUM
     Indication: Product used for unknown indication
     Route: 064
  908. LISINOPRIL [Concomitant]
     Active Substance: LISINOPRIL
     Indication: Product used for unknown indication
     Route: 064
  909. LISINOPRIL [Concomitant]
     Active Substance: LISINOPRIL
     Route: 064
  910. PREGABALIN [Concomitant]
     Active Substance: PREGABALIN
     Indication: Product used for unknown indication
     Route: 064
  911. ACETAMINOPHEN\CODEINE PHOSPHATE [Concomitant]
     Active Substance: ACETAMINOPHEN\CODEINE PHOSPHATE
     Indication: Product used for unknown indication
     Route: 064
  912. DEXAMETHASONE [Concomitant]
     Active Substance: DEXAMETHASONE
     Indication: Product used for unknown indication
     Route: 064
  913. QUETIAPINE FUMARATE [Concomitant]
     Active Substance: QUETIAPINE FUMARATE
     Indication: Product used for unknown indication
     Route: 064
  914. QUETIAPINE FUMARATE [Concomitant]
     Active Substance: QUETIAPINE FUMARATE
     Route: 064
  915. CETIRIZINE HYDROCHLORIDE\PHENYLEPHRINE HYDROCHLORIDE [Concomitant]
     Active Substance: CETIRIZINE HYDROCHLORIDE\PHENYLEPHRINE HYDROCHLORIDE
     Indication: Product used for unknown indication
     Route: 064
  916. HYDROCORTISONE BUTYRATE [Concomitant]
     Active Substance: HYDROCORTISONE BUTYRATE
     Indication: Product used for unknown indication
     Route: 064
  917. HYDROCORTISONE BUTYRATE [Concomitant]
     Active Substance: HYDROCORTISONE BUTYRATE
     Route: 064
  918. HYDROCORTISONE BUTYRATE [Concomitant]
     Active Substance: HYDROCORTISONE BUTYRATE
     Route: 064
  919. HYDROCORTISONE BUTYRATE [Concomitant]
     Active Substance: HYDROCORTISONE BUTYRATE
     Route: 064
  920. HYDROCORTISONE BUTYRATE [Concomitant]
     Active Substance: HYDROCORTISONE BUTYRATE
     Route: 064
  921. ACETAMINOPHEN\CAFFEINE\CODEINE PHOSPHATE [Concomitant]
     Active Substance: ACETAMINOPHEN\CAFFEINE\CODEINE PHOSPHATE
     Indication: Product used for unknown indication
     Route: 064
  922. NAPROXEN [Concomitant]
     Active Substance: NAPROXEN
     Indication: Product used for unknown indication
     Route: 064
  923. PANTOPRAZOLE [Concomitant]
     Active Substance: PANTOPRAZOLE
     Indication: Product used for unknown indication
     Route: 064
  924. APREPITANT [Concomitant]
     Active Substance: APREPITANT
     Indication: Product used for unknown indication
     Route: 064
  925. APREPITANT [Concomitant]
     Active Substance: APREPITANT
     Route: 064
  926. CHLORAPREP [Concomitant]
     Active Substance: CHLORHEXIDINE GLUCONATE\ISOPROPYL ALCOHOL
     Indication: Product used for unknown indication
     Route: 064
  927. CHLORAPREP [Concomitant]
     Active Substance: CHLORHEXIDINE GLUCONATE\ISOPROPYL ALCOHOL
     Route: 064
  928. CHLORHEXIDINE [Concomitant]
     Active Substance: CHLORHEXIDINE
     Indication: Product used for unknown indication
     Route: 064
  929. CHLORHEXIDINE [Concomitant]
     Active Substance: CHLORHEXIDINE
     Route: 064
  930. CHLORHEXIDINE [Concomitant]
     Active Substance: CHLORHEXIDINE
     Route: 064
  931. CHLORHEXIDINE [Concomitant]
     Active Substance: CHLORHEXIDINE
     Route: 064
  932. CHLORHEXIDINE [Concomitant]
     Active Substance: CHLORHEXIDINE
     Route: 064
  933. CHLORHEXIDINE [Concomitant]
     Active Substance: CHLORHEXIDINE
     Route: 064
  934. CHLORHEXIDINE [Concomitant]
     Active Substance: CHLORHEXIDINE
     Route: 064
  935. CHLORHEXIDINE [Concomitant]
     Active Substance: CHLORHEXIDINE
     Route: 064
  936. CHLORHEXIDINE [Concomitant]
     Active Substance: CHLORHEXIDINE
     Route: 064
  937. CHLORHEXIDINE [Concomitant]
     Active Substance: CHLORHEXIDINE
     Route: 064
  938. CHLORHEXIDINE GLUCONATE [Concomitant]
     Active Substance: CHLORHEXIDINE GLUCONATE
     Indication: Product used for unknown indication
     Route: 064
  939. CHLORHEXIDINE GLUCONATE [Concomitant]
     Active Substance: CHLORHEXIDINE GLUCONATE
     Route: 064
  940. CHLORHEXIDINE GLUCONATE [Concomitant]
     Active Substance: CHLORHEXIDINE GLUCONATE
     Route: 064
  941. HYDROCORTISONE SODIUM SUCCINATE [Concomitant]
     Active Substance: HYDROCORTISONE SODIUM SUCCINATE
     Indication: Product used for unknown indication
     Route: 064
  942. HYDROCORTISONE SODIUM SUCCINATE [Concomitant]
     Active Substance: HYDROCORTISONE SODIUM SUCCINATE
     Route: 064
  943. HYDROCORTISONE SODIUM SUCCINATE [Concomitant]
     Active Substance: HYDROCORTISONE SODIUM SUCCINATE
     Route: 064
  944. HYDROCORTISONE SODIUM SUCCINATE [Concomitant]
     Active Substance: HYDROCORTISONE SODIUM SUCCINATE
     Route: 064
  945. HYDROCORTISONE SODIUM SUCCINATE [Concomitant]
     Active Substance: HYDROCORTISONE SODIUM SUCCINATE
     Route: 064
  946. HYDROCORTISONE SODIUM SUCCINATE [Concomitant]
     Active Substance: HYDROCORTISONE SODIUM SUCCINATE
     Route: 064
  947. HYDROCORTISONE SODIUM SUCCINATE [Concomitant]
     Active Substance: HYDROCORTISONE SODIUM SUCCINATE
     Route: 064
  948. HYDROCORTISONE SODIUM SUCCINATE [Concomitant]
     Active Substance: HYDROCORTISONE SODIUM SUCCINATE
     Route: 064
  949. HYDROCORTISONE SODIUM SUCCINATE [Concomitant]
     Active Substance: HYDROCORTISONE SODIUM SUCCINATE
     Route: 064
  950. ISOPROPYL ALCOHOL [Concomitant]
     Active Substance: ISOPROPYL ALCOHOL
     Indication: Product used for unknown indication
     Route: 064
  951. ISOPROPYL ALCOHOL [Concomitant]
     Active Substance: ISOPROPYL ALCOHOL
     Route: 064
  952. ISOPROPYL ALCOHOL [Concomitant]
     Active Substance: ISOPROPYL ALCOHOL
     Route: 064
  953. ISOPROPYL ALCOHOL [Concomitant]
     Active Substance: ISOPROPYL ALCOHOL
     Route: 064
  954. NEOMYCIN [Concomitant]
     Active Substance: NEOMYCIN
     Indication: Product used for unknown indication
     Route: 064
  955. OXYCODONE [Concomitant]
     Active Substance: OXYCODONE
     Indication: Product used for unknown indication
     Route: 064
  956. OXYCODONE [Concomitant]
     Active Substance: OXYCODONE
     Route: 064
  957. OXYCODONE HYDROCHLORIDE [Concomitant]
     Active Substance: OXYCODONE HYDROCHLORIDE
     Indication: Product used for unknown indication
     Route: 064
  958. OXYCODONE TEREPHTHALATE [Concomitant]
     Active Substance: OXYCODONE TEREPHTHALATE
     Indication: Product used for unknown indication
     Route: 064
  959. OXYCODONE TEREPHTHALATE [Concomitant]
     Active Substance: OXYCODONE TEREPHTHALATE
     Route: 064
  960. PERIOGARD [Concomitant]
     Active Substance: CHLORHEXIDINE GLUCONATE
     Indication: Product used for unknown indication
     Route: 064
  961. PERIOGARD [Concomitant]
     Active Substance: CHLORHEXIDINE GLUCONATE
     Route: 064
  962. PERIOGARD [Concomitant]
     Active Substance: CHLORHEXIDINE GLUCONATE
     Route: 064
  963. PERIOGARD [Concomitant]
     Active Substance: CHLORHEXIDINE GLUCONATE
     Route: 064
  964. PERIOGARD [Concomitant]
     Active Substance: CHLORHEXIDINE GLUCONATE
     Dosage: SOLUTION BUCCAL
     Route: 064
  965. SULFAMETHOXAZOLE [Concomitant]
     Active Substance: SULFAMETHOXAZOLE
     Indication: Product used for unknown indication
     Route: 064
  966. SULFAMETHOXAZOLE\TRIMETHOPRIM [Concomitant]
     Active Substance: SULFAMETHOXAZOLE\TRIMETHOPRIM
     Indication: Product used for unknown indication
     Route: 064
  967. SULFAMETHOXAZOLE\TRIMETHOPRIM [Concomitant]
     Active Substance: SULFAMETHOXAZOLE\TRIMETHOPRIM
     Route: 064
  968. TRAMADOL HYDROCHLORIDE [Concomitant]
     Active Substance: TRAMADOL HYDROCHLORIDE
     Indication: Product used for unknown indication
     Route: 064
  969. TYLENOL [Concomitant]
     Active Substance: ACETAMINOPHEN
     Indication: Product used for unknown indication
     Route: 064
  970. TYLENOL [Concomitant]
     Active Substance: ACETAMINOPHEN
     Route: 064
  971. TYLENOL [Concomitant]
     Active Substance: ACETAMINOPHEN
     Route: 064
  972. TYLENOL WITH CODEINE [Concomitant]
     Active Substance: ACETAMINOPHEN\CODEINE PHOSPHATE
     Indication: Product used for unknown indication
     Route: 064
  973. ZOPICLONE [Concomitant]
     Active Substance: ZOPICLONE
     Indication: Product used for unknown indication
     Route: 064
  974. MARVELON [Concomitant]
     Active Substance: DESOGESTREL\ETHINYL ESTRADIOL
     Indication: Product used for unknown indication
     Route: 064
  975. MARVELON [Concomitant]
     Active Substance: DESOGESTREL\ETHINYL ESTRADIOL
     Route: 064
  976. MEGLUMINE [Concomitant]
     Active Substance: MEGLUMINE
     Indication: Product used for unknown indication
     Route: 064
  977. DESOGESTREL\ETHINYL ESTRADIOL [Concomitant]
     Active Substance: DESOGESTREL\ETHINYL ESTRADIOL
     Indication: Product used for unknown indication
     Route: 064
  978. DESOGESTREL\ETHINYL ESTRADIOL [Concomitant]
     Active Substance: DESOGESTREL\ETHINYL ESTRADIOL
     Route: 064
  979. CALCIUM CARBONATE [Concomitant]
     Active Substance: CALCIUM CARBONATE
     Indication: Product used for unknown indication
     Route: 064
  980. ALENDRONATE SODIUM\CHOLECALCIFEROL [Concomitant]
     Active Substance: ALENDRONATE SODIUM\CHOLECALCIFEROL
     Indication: Product used for unknown indication
     Route: 064
  981. ALENDRONATE SODIUM\CHOLECALCIFEROL [Concomitant]
     Active Substance: ALENDRONATE SODIUM\CHOLECALCIFEROL
     Route: 064
  982. ACETAMINOPHEN\OXYCODONE HYDROCHLORIDE [Concomitant]
     Active Substance: ACETAMINOPHEN\OXYCODONE HYDROCHLORIDE
     Indication: Product used for unknown indication
     Route: 064
  983. DICLOFENAC SODIUM [Concomitant]
     Active Substance: DICLOFENAC\DICLOFENAC SODIUM
     Indication: Product used for unknown indication
     Route: 064
  984. DICLOFENAC SODIUM [Concomitant]
     Active Substance: DICLOFENAC\DICLOFENAC SODIUM
     Route: 064
  985. DICLOFENAC SODIUM [Concomitant]
     Active Substance: DICLOFENAC\DICLOFENAC SODIUM
     Route: 064
  986. DICLOFENAC SODIUM [Concomitant]
     Active Substance: DICLOFENAC\DICLOFENAC SODIUM
     Route: 064
  987. CALCIUM GLUBIONATE [Concomitant]
     Active Substance: CALCIUM GLUBIONATE
     Indication: Product used for unknown indication
     Route: 064
  988. DOXYCYCLINE HYCLATE [Concomitant]
     Active Substance: DOXYCYCLINE HYCLATE
     Indication: Product used for unknown indication
     Dosage: 40 MILLIGRAM
     Route: 064
  989. DOXYCYCLINE HYCLATE [Concomitant]
     Active Substance: DOXYCYCLINE HYCLATE
     Route: 064
  990. PANTOPRAZOLE SODIUM [Concomitant]
     Active Substance: PANTOPRAZOLE SODIUM
     Indication: Product used for unknown indication
     Route: 064
  991. PANTOPRAZOLE SODIUM [Concomitant]
     Active Substance: PANTOPRAZOLE SODIUM
     Route: 064
  992. PSEUDOEPHEDRINE [Concomitant]
     Active Substance: PSEUDOEPHEDRINE
     Indication: Product used for unknown indication
     Route: 064
  993. PSEUDOEPHEDRINE [Concomitant]
     Active Substance: PSEUDOEPHEDRINE
     Route: 064
  994. HYALURONIDASE (HUMAN RECOMBINANT)\RITUXIMAB [Concomitant]
     Active Substance: HYALURONIDASE (HUMAN RECOMBINANT)\RITUXIMAB
     Indication: Product used for unknown indication
     Route: 064
  995. DIETARY SUPPLEMENT\HERBALS [Concomitant]
     Active Substance: DIETARY SUPPLEMENT\HERBALS
     Indication: Product used for unknown indication
     Route: 064
  996. DIETARY SUPPLEMENT\HERBALS [Concomitant]
     Active Substance: DIETARY SUPPLEMENT\HERBALS
     Dosage: GLOBULES ORAL
     Route: 064
  997. VITAMIN C [Concomitant]
     Active Substance: ASCORBIC ACID
     Indication: Product used for unknown indication
     Route: 064
  998. VITAMIN C [Concomitant]
     Active Substance: ASCORBIC ACID
     Route: 064
  999. CALCIUM CHLORIDE [Concomitant]
     Active Substance: CALCIUM CHLORIDE
     Indication: Product used for unknown indication
     Route: 064
  1000. PHENYLEPHRINE HYDROCHLORIDE [Concomitant]
     Active Substance: PHENYLEPHRINE HYDROCHLORIDE
     Indication: Product used for unknown indication
     Route: 064
  1001. PHENYLEPHRINE HYDROCHLORIDE [Concomitant]
     Active Substance: PHENYLEPHRINE HYDROCHLORIDE
     Route: 064
  1002. PHENYLEPHRINE HYDROCHLORIDE [Concomitant]
     Active Substance: PHENYLEPHRINE HYDROCHLORIDE
     Dosage: LIQUID INTRAMUSCULAR
     Route: 064
  1003. CODEINE [Concomitant]
     Active Substance: CODEINE
     Indication: Product used for unknown indication
     Route: 064
  1004. AZATHIOPRINE [Concomitant]
     Active Substance: AZATHIOPRINE
     Indication: Product used for unknown indication
     Route: 064
  1005. CHLORHEXIDINE GLUCONATE\ISOPROPYL ALCOHOL [Concomitant]
     Active Substance: CHLORHEXIDINE GLUCONATE\ISOPROPYL ALCOHOL
     Indication: Product used for unknown indication
     Route: 064
  1006. CHLORHEXIDINE GLUCONATE\ISOPROPYL ALCOHOL [Concomitant]
     Active Substance: CHLORHEXIDINE GLUCONATE\ISOPROPYL ALCOHOL
     Route: 064
  1007. CHLORHEXIDINE GLUCONATE\ISOPROPYL ALCOHOL [Concomitant]
     Active Substance: CHLORHEXIDINE GLUCONATE\ISOPROPYL ALCOHOL
     Route: 064
  1008. ACETAMINOPHEN AND CODEINE [Concomitant]
     Active Substance: ACETAMINOPHEN\CODEINE PHOSPHATE
     Indication: Product used for unknown indication
     Route: 064
  1009. ACETAMINOPHEN AND CODEINE [Concomitant]
     Active Substance: ACETAMINOPHEN\CODEINE PHOSPHATE
     Route: 064
  1010. TRAMADOL HYDROCHLORIDE [Concomitant]
     Active Substance: TRAMADOL HYDROCHLORIDE
     Indication: Product used for unknown indication
     Route: 064
  1011. ATIVAN [Concomitant]
     Active Substance: LORAZEPAM
     Indication: Product used for unknown indication
     Route: 064
  1012. DILTIAZEM [Concomitant]
     Active Substance: DILTIAZEM
     Indication: Product used for unknown indication
     Route: 064
  1013. ERGOCALCIFEROL [Concomitant]
     Active Substance: ERGOCALCIFEROL
     Indication: Product used for unknown indication
     Route: 064
  1014. ERYTHROMYCIN [Concomitant]
     Active Substance: ERYTHROMYCIN
     Indication: Product used for unknown indication
     Route: 064
  1015. GLUCOSAMINE [Concomitant]
     Active Substance: GLUCOSAMINE
     Indication: Product used for unknown indication
     Route: 064
  1016. DICLOFENAC DIETHYLAMINE [Concomitant]
     Active Substance: DICLOFENAC DIETHYLAMINE
     Indication: Product used for unknown indication
     Route: 064
  1017. PANTOPRAZOLE SODIUM ANHYDROUS [Concomitant]
     Active Substance: PANTOPRAZOLE SODIUM ANHYDROUS
     Indication: Product used for unknown indication
     Route: 064
  1018. PANTOPRAZOLE SODIUM ANHYDROUS [Concomitant]
     Active Substance: PANTOPRAZOLE SODIUM ANHYDROUS
     Route: 064
  1019. BORAGE OIL [Concomitant]
     Active Substance: BORAGE OIL
     Indication: Product used for unknown indication
     Route: 064
  1020. CALCIUM CARBONATE\CHOLECALCIFEROL [Concomitant]
     Active Substance: CALCIUM CARBONATE\CHOLECALCIFEROL
     Indication: Product used for unknown indication
     Route: 064
  1021. ENTYVIO [Concomitant]
     Active Substance: VEDOLIZUMAB
     Indication: Product used for unknown indication
     Dosage: IV INFUSION
     Route: 064
  1022. MESALAMINE [Concomitant]
     Active Substance: MESALAMINE
     Indication: Product used for unknown indication
     Dosage: IV INFUSION
     Route: 064
  1023. RINVOQ [Concomitant]
     Active Substance: UPADACITINIB
     Indication: Product used for unknown indication
     Route: 064
  1024. RINVOQ [Concomitant]
     Active Substance: UPADACITINIB
     Route: 064
  1025. SOLU-MEDROL [Concomitant]
     Active Substance: METHYLPREDNISOLONE SODIUM SUCCINATE
     Indication: Product used for unknown indication
     Route: 064
  1026. SULFATHIAZOLE [Concomitant]
     Active Substance: SULFATHIAZOLE
     Indication: Product used for unknown indication
     Route: 064
  1027. TRIAMCINOLONE [Concomitant]
     Active Substance: TRIAMCINOLONE
     Indication: Product used for unknown indication
     Route: 064
  1028. DICLOFENAC [Concomitant]
     Active Substance: DICLOFENAC
     Indication: Product used for unknown indication
     Route: 064
  1029. ASACOL [Concomitant]
     Active Substance: MESALAMINE
     Indication: Product used for unknown indication
     Route: 064
  1030. CALCIUM [Concomitant]
     Active Substance: CALCIUM
     Indication: Product used for unknown indication
     Route: 064
  1031. DIPHENHYDRAMINE [Concomitant]
     Active Substance: DIPHENHYDRAMINE
     Indication: Product used for unknown indication
     Route: 064
  1032. EMEND [Concomitant]
     Active Substance: APREPITANT
     Indication: Product used for unknown indication
     Route: 064
  1033. EMEND [Concomitant]
     Active Substance: APREPITANT
     Route: 064
  1034. FOSAPREPITANT [Concomitant]
     Active Substance: FOSAPREPITANT
     Indication: Product used for unknown indication
     Route: 064
  1035. HYALURONIDASE [Concomitant]
     Active Substance: HYALURONIDASE\HYALURONIDASE (HUMAN RECOMBINANT)
     Indication: Product used for unknown indication
     Route: 064
  1036. LANSOPRAZOLE [Concomitant]
     Active Substance: LANSOPRAZOLE
     Indication: Product used for unknown indication
     Route: 064
  1037. CLIOQUINOL\FLUMETHASONE [Concomitant]
     Active Substance: CLIOQUINOL\FLUMETHASONE
     Indication: Product used for unknown indication
     Route: 064
  1038. LORAZEPAM [Concomitant]
     Active Substance: LORAZEPAM
     Indication: Product used for unknown indication
     Route: 064
  1039. MESALAMINE [Concomitant]
     Active Substance: MESALAMINE
     Indication: Product used for unknown indication
     Route: 064
  1040. MORPHINE [Concomitant]
     Active Substance: MORPHINE
     Indication: Product used for unknown indication
     Route: 064
  1041. PANTOPRAZOLE SODIUM [Concomitant]
     Active Substance: PANTOPRAZOLE SODIUM
     Indication: Product used for unknown indication
     Route: 064
  1042. PARA-AMINOSALICYLIC ACID [Concomitant]
     Active Substance: AMINOSALICYLIC ACID
     Indication: Product used for unknown indication
     Route: 064
  1043. PERCOCET [Concomitant]
     Active Substance: ACETAMINOPHEN\OXYCODONE HYDROCHLORIDE
     Indication: Product used for unknown indication
     Route: 064
  1044. PERCOCET [Concomitant]
     Active Substance: ACETAMINOPHEN\OXYCODONE HYDROCHLORIDE
     Route: 064
  1045. PREVACID [Concomitant]
     Active Substance: LANSOPRAZOLE
     Indication: Product used for unknown indication
     Route: 064
  1046. ALBUTEROL [Concomitant]
     Active Substance: ALBUTEROL
     Indication: Product used for unknown indication
     Route: 064
  1047. ZESTRIL [Concomitant]
     Active Substance: LISINOPRIL
     Indication: Product used for unknown indication
     Route: 064
  1048. ACTIFED (PSEUDOEPHEDRINE HYDROCHLORIDE\TRIPROLIDINE HYDROCHLORIDE) [Concomitant]
     Active Substance: PSEUDOEPHEDRINE HYDROCHLORIDE\TRIPROLIDINE HYDROCHLORIDE
     Indication: Product used for unknown indication
  1049. SECUKINUMAB [Concomitant]
     Active Substance: SECUKINUMAB
     Indication: Product used for unknown indication
  1050. AZULFIDINE [Concomitant]
     Active Substance: SULFASALAZINE
     Indication: Product used for unknown indication
  1051. CLIOQUINOL [Concomitant]
     Active Substance: CLIOQUINOL
     Indication: Product used for unknown indication
  1052. DILTIAZEM HYDROCHLORIDE [Concomitant]
     Active Substance: DILTIAZEM HYDROCHLORIDE
     Indication: Rheumatoid arthritis
  1053. ACETAMINOPHEN [Concomitant]
     Active Substance: ACETAMINOPHEN
     Indication: Rheumatoid arthritis
     Route: 048
  1054. ACETAMINOPHEN [Concomitant]
     Active Substance: ACETAMINOPHEN
  1055. ACETAMINOPHEN\OXYCODONE HYDROCHLORIDE [Concomitant]
     Active Substance: ACETAMINOPHEN\OXYCODONE HYDROCHLORIDE
     Indication: Product used for unknown indication
  1056. HYALURONIDASE (HUMAN RECOMBINANT) [Concomitant]
     Active Substance: HYALURONIDASE (HUMAN RECOMBINANT)
     Indication: Rheumatoid arthritis
  1057. MINOCYCLINE HYDROCHLORIDE [Concomitant]
     Active Substance: MINOCYCLINE HYDROCHLORIDE
     Indication: Rheumatoid arthritis
  1058. PREDNISONE;RITUXIMAB [Concomitant]
     Indication: Product used for unknown indication
     Route: 048
  1059. PREDNISONE;RITUXIMAB [Concomitant]
     Route: 048
  1060. PREDNISONE;RITUXIMAB [Concomitant]
     Route: 048
  1061. PREDNISONE;RITUXIMAB [Concomitant]
     Route: 048
  1062. HYDROCORTISONE\NEOMYCIN\NITROFURAZONE\RETINOL\THYMOL\TYROTHRICIN [Concomitant]
     Active Substance: HYDROCORTISONE\NEOMYCIN\NITROFURAZONE\RETINOL\THYMOL\TYROTHRICIN
     Indication: Rheumatoid arthritis
     Route: 048
  1063. HYDROCORTISONE\NEOMYCIN\NITROFURAZONE\RETINOL\THYMOL\TYROTHRICIN [Concomitant]
     Active Substance: HYDROCORTISONE\NEOMYCIN\NITROFURAZONE\RETINOL\THYMOL\TYROTHRICIN
     Route: 048
  1064. FLUMETHASONE\SALICYLIC ACID [Concomitant]
     Active Substance: FLUMETHASONE\SALICYLIC ACID
     Indication: Product used for unknown indication
  1065. DESOXIMETASONE\FRAMYCETIN SULFATE\GRAMICIDIN [Concomitant]
     Active Substance: DESOXIMETASONE\FRAMYCETIN SULFATE\GRAMICIDIN
     Indication: Rheumatoid arthritis
  1066. CORTISONE ACETATE\DIPHENHYDRMINE HYDROCHLORIDE\SULFISOMIDINE [Concomitant]
     Active Substance: CORTISONE ACETATE\DIPHENHYDRAMINE HYDROCHLORIDE\SULFISOMIDINE
  1067. CHLORHEXIDINE\SODIUM FLUORIDE\TRICLOSAN\ZINC CHLORIDE [Concomitant]
     Active Substance: CHLORHEXIDINE\SODIUM FLUORIDE\TRICLOSAN\ZINC CHLORIDE
     Indication: Product used for unknown indication
  1068. MINERALS\VITAMINS [Concomitant]
     Active Substance: MINERALS\VITAMINS
     Indication: Rheumatoid arthritis
  1069. AMINOSALICYLATE CALCIUM [Concomitant]
     Active Substance: AMINOSALICYLATE CALCIUM
     Indication: Product used for unknown indication
  1070. BUPIVACAINE HYDROCHLORIDE\CLONIDINE HYDROCHLORIDE\MORPHINE SULFATE [Concomitant]
     Active Substance: BUPIVACAINE HYDROCHLORIDE\CLONIDINE HYDROCHLORIDE\MORPHINE SULFATE
     Indication: Rheumatoid arthritis
  1071. AZATHIOPRINE SODIUM [Concomitant]
     Active Substance: AZATHIOPRINE SODIUM
     Indication: Rheumatoid arthritis
  1072. ALENDRONIC ACID\CALCIUM CITRATE\CHOLECALCIFEROL [Concomitant]
     Active Substance: ALENDRONIC ACID\CALCIUM CITRATE\CHOLECALCIFEROL
     Indication: Product used for unknown indication
  1073. ALENDRONATE SODIUM [Concomitant]
     Active Substance: ALENDRONATE SODIUM
     Indication: Rheumatoid arthritis
  1074. FISH OIL [Concomitant]
     Active Substance: FISH OIL
     Indication: Product used for unknown indication
  1075. ACETAMINOPHEN\CYANOCOBALAMIN\THIAMINE\TRAMADOL HYDROCHLORIDE [Concomitant]
     Active Substance: ACETAMINOPHEN\CYANOCOBALAMIN\THIAMINE\TRAMADOL HYDROCHLORIDE
     Indication: Product used for unknown indication
  1076. FLUOROMETHOLONE [Concomitant]
     Active Substance: FLUOROMETHOLONE
     Indication: Product used for unknown indication
     Route: 047
  1077. ACETAMINOPHEN\CAFFEINE\CODEINE PHOSPHATE [Concomitant]
     Active Substance: ACETAMINOPHEN\CAFFEINE\CODEINE PHOSPHATE
     Indication: Product used for unknown indication
  1078. DIETARY SUPPLEMENT [Concomitant]
     Active Substance: DIETARY SUPPLEMENT
     Indication: Product used for unknown indication
     Route: 064
  1079. DESOGESTREL AND ETHINYL ESTRADIOL [Concomitant]
     Active Substance: DESOGESTREL\ETHINYL ESTRADIOL
     Indication: Product used for unknown indication
     Route: 064
  1080. DEXTROMETHORPHAN HYDROBROMIDE\TRIPROLIDINE HYDROCHLORIDE [Concomitant]
     Active Substance: DEXTROMETHORPHAN HYDROBROMIDE\TRIPROLIDINE HYDROCHLORIDE
     Indication: Product used for unknown indication
     Route: 064
  1081. HYDROCORTISONE PROBUTATE [Concomitant]
     Active Substance: HYDROCORTISONE PROBUTATE
     Indication: Product used for unknown indication
     Route: 064
  1082. TRIMETHOPRIM [Concomitant]
     Active Substance: TRIMETHOPRIM
     Indication: Product used for unknown indication
     Route: 064
  1083. ERGOCALCIFEROL;RETINOL ACETATE [Concomitant]
     Indication: Product used for unknown indication
     Route: 064
  1084. LANSOPRAZOLE;METRONIDAZOLE;TETRACYCLINE [Concomitant]
     Indication: Product used for unknown indication
     Route: 064
  1085. PANTOPRAZOLE SODIUM [Concomitant]
     Active Substance: PANTOPRAZOLE SODIUM
     Indication: Product used for unknown indication
     Route: 064
  1086. ACETAMINOPHEN AND CODEINE [Concomitant]
     Active Substance: ACETAMINOPHEN\CODEINE PHOSPHATE
     Indication: Product used for unknown indication
     Route: 064
  1087. ALENDRONATE SODIUM\CHOLECALCIFEROL [Concomitant]
     Active Substance: ALENDRONATE SODIUM\CHOLECALCIFEROL
     Indication: Product used for unknown indication
     Route: 064
  1088. CALCIUM\CHOLECALCIFEROL [Concomitant]
     Active Substance: CALCIUM\CHOLECALCIFEROL
     Indication: Product used for unknown indication
     Route: 064
  1089. CALCIUM CARBONATE\CHOLECALCIFEROL [Concomitant]
     Active Substance: CALCIUM CARBONATE\CHOLECALCIFEROL
     Indication: Product used for unknown indication
     Route: 064
  1090. CODEINE PHOSPHATE [Concomitant]
     Active Substance: CODEINE PHOSPHATE
     Indication: Product used for unknown indication
     Route: 064
  1091. FLUMETHASONE PIVALATE [Concomitant]
     Active Substance: FLUMETHASONE PIVALATE
     Indication: Product used for unknown indication
     Route: 064
  1092. NAPROSYN [Concomitant]
     Active Substance: NAPROXEN
     Indication: Product used for unknown indication
     Route: 064
  1093. NAPROXEN [Concomitant]
     Active Substance: NAPROXEN
     Indication: Product used for unknown indication
     Route: 064
  1094. NAPROXEN [Concomitant]
     Active Substance: NAPROXEN
     Route: 064
  1095. PSEUDOEPHEDRINE HYDROCHLORIDE AND TRIPROLIDINE HYDROCHLORIDE [Concomitant]
     Active Substance: PSEUDOEPHEDRINE HYDROCHLORIDE\TRIPROLIDINE HYDROCHLORIDE
     Indication: Product used for unknown indication
     Route: 064
  1096. DIETARY SUPPLEMENT [Concomitant]
     Active Substance: DIETARY SUPPLEMENT
     Indication: Product used for unknown indication
     Route: 064
  1097. TRIPROLIDINE HYDROCHLORIDE [Concomitant]
     Active Substance: TRIPROLIDINE HYDROCHLORIDE
     Indication: Product used for unknown indication
     Route: 064
  1098. VEDOLIZUMAB [Concomitant]
     Active Substance: VEDOLIZUMAB
     Indication: Product used for unknown indication
     Dosage: POWDER FOR SOLUTION INTRAVENOUS
     Route: 064
  1099. CETIRIZINE HYDROCHLORIDE\PSEUDOEPHEDRINE HYDROCHLORIDE [Concomitant]
     Active Substance: CETIRIZINE HYDROCHLORIDE\PSEUDOEPHEDRINE HYDROCHLORIDE
     Indication: Product used for unknown indication
     Route: 064
  1100. CLIOQUINOL [Concomitant]
     Active Substance: CLIOQUINOL
     Indication: Product used for unknown indication
     Route: 064
  1101. DICLOFENAC DIETHYLAMINE [Concomitant]
     Active Substance: DICLOFENAC DIETHYLAMINE
     Indication: Product used for unknown indication
     Route: 064
  1102. FLUMETHASONE [Concomitant]
     Active Substance: FLUMETHASONE
     Indication: Product used for unknown indication
     Route: 064
  1103. BENYLIN [AMBROXOL HYDROCHLORIDE] [Concomitant]
     Indication: Product used for unknown indication
     Route: 064
  1104. MARVELON [Concomitant]
     Active Substance: DESOGESTREL\ETHINYL ESTRADIOL
     Indication: Product used for unknown indication
     Route: 064
  1105. PSEUDOEPHEDRINE HYDROCHLORIDE [Concomitant]
     Active Substance: PSEUDOEPHEDRINE HYDROCHLORIDE
     Indication: Product used for unknown indication
     Route: 064
  1106. PSEUDOEPHEDRINE HYDROCHLORIDE [Concomitant]
     Active Substance: PSEUDOEPHEDRINE HYDROCHLORIDE
     Route: 064
  1107. PSEUDOEPHEDRINE HYDROCHLORIDE [Concomitant]
     Active Substance: PSEUDOEPHEDRINE HYDROCHLORIDE
     Route: 064
  1108. MOXIFLOXACIN [Concomitant]
     Active Substance: MOXIFLOXACIN
     Indication: Product used for unknown indication
     Route: 064
  1109. ALFACALCIDOL [Concomitant]
     Active Substance: ALFACALCIDOL
     Indication: Product used for unknown indication
     Route: 064
  1110. PREDNISONE ACETATE [Concomitant]
     Active Substance: PREDNISONE ACETATE
     Indication: Product used for unknown indication
     Route: 064
  1111. ALFACALCIDOL [Concomitant]
     Active Substance: ALFACALCIDOL
     Indication: Product used for unknown indication
     Route: 064

REACTIONS (2)
  - Congenital anomaly [Unknown]
  - Foetal exposure during pregnancy [Unknown]
